FAERS Safety Report 24076783 (Version 4)
Quarter: 2025Q3

REPORT INFORMATION
  Report Type: Other
  Country: CA (occurrence: CA)
  Receive Date: 20240711
  Receipt Date: 20250826
  Transmission Date: 20251021
  Serious: Yes (Death, Life-Threatening, Hospitalization, Disabling, Congenital Anomaly, Other)
  Sender: BIOCON
  Company Number: CA-BIOCON BIOLOGICS LIMITED-BBL2024004913

PATIENT

DRUGS (1020)
  1. ADALIMUMAB [Suspect]
     Active Substance: ADALIMUMAB
     Indication: Product used for unknown indication
     Route: 058
  2. ADALIMUMAB [Suspect]
     Active Substance: ADALIMUMAB
     Indication: Rheumatoid arthritis
     Route: 058
  3. ADALIMUMAB [Suspect]
     Active Substance: ADALIMUMAB
     Route: 065
  4. ADALIMUMAB [Suspect]
     Active Substance: ADALIMUMAB
     Route: 058
  5. ADALIMUMAB [Suspect]
     Active Substance: ADALIMUMAB
     Route: 058
  6. ADALIMUMAB [Suspect]
     Active Substance: ADALIMUMAB
     Route: 065
  7. ADALIMUMAB [Suspect]
     Active Substance: ADALIMUMAB
     Route: 065
  8. ADALIMUMAB [Suspect]
     Active Substance: ADALIMUMAB
     Route: 042
  9. ADALIMUMAB [Suspect]
     Active Substance: ADALIMUMAB
     Route: 058
  10. ADALIMUMAB [Suspect]
     Active Substance: ADALIMUMAB
     Route: 065
  11. ADALIMUMAB [Suspect]
     Active Substance: ADALIMUMAB
     Route: 042
  12. ADALIMUMAB [Suspect]
     Active Substance: ADALIMUMAB
     Route: 065
  13. ADALIMUMAB [Suspect]
     Active Substance: ADALIMUMAB
     Route: 041
  14. ADALIMUMAB [Suspect]
     Active Substance: ADALIMUMAB
     Route: 058
  15. ACETAMINOPHEN [Suspect]
     Active Substance: ACETAMINOPHEN
     Indication: Rheumatoid arthritis
     Route: 065
  16. ACETAMINOPHEN [Suspect]
     Active Substance: ACETAMINOPHEN
     Indication: Product used for unknown indication
     Route: 065
  17. ACETAMINOPHEN [Suspect]
     Active Substance: ACETAMINOPHEN
     Route: 065
  18. ACETAMINOPHEN\NAPROXEN [Suspect]
     Active Substance: ACETAMINOPHEN\NAPROXEN
     Indication: Rheumatoid arthritis
     Route: 065
  19. ACTEMRA [Suspect]
     Active Substance: TOCILIZUMAB
     Indication: Product used for unknown indication
     Route: 058
  20. ACTEMRA [Suspect]
     Active Substance: TOCILIZUMAB
     Indication: Rheumatoid arthritis
     Route: 065
  21. ACTEMRA [Suspect]
     Active Substance: TOCILIZUMAB
     Route: 058
  22. ACTEMRA [Suspect]
     Active Substance: TOCILIZUMAB
     Route: 042
  23. ACTEMRA [Suspect]
     Active Substance: TOCILIZUMAB
     Route: 042
  24. ACTEMRA [Suspect]
     Active Substance: TOCILIZUMAB
     Route: 058
  25. ACTEMRA [Suspect]
     Active Substance: TOCILIZUMAB
     Route: 042
  26. ACTEMRA [Suspect]
     Active Substance: TOCILIZUMAB
     Route: 058
  27. ACTEMRA [Suspect]
     Active Substance: TOCILIZUMAB
     Route: 065
  28. ACTEMRA [Suspect]
     Active Substance: TOCILIZUMAB
     Route: 042
  29. ACTEMRA [Suspect]
     Active Substance: TOCILIZUMAB
     Route: 058
  30. ACTEMRA [Suspect]
     Active Substance: TOCILIZUMAB
     Route: 058
  31. ACTEMRA [Suspect]
     Active Substance: TOCILIZUMAB
     Route: 058
  32. ACTEMRA [Suspect]
     Active Substance: TOCILIZUMAB
     Route: 042
  33. ACTEMRA [Suspect]
     Active Substance: TOCILIZUMAB
     Route: 017
  34. ACTEMRA [Suspect]
     Active Substance: TOCILIZUMAB
     Route: 058
  35. ACTEMRA [Suspect]
     Active Substance: TOCILIZUMAB
     Route: 061
  36. ACTEMRA [Suspect]
     Active Substance: TOCILIZUMAB
     Route: 065
  37. ACTEMRA [Suspect]
     Active Substance: TOCILIZUMAB
     Route: 065
  38. ACTEMRA [Suspect]
     Active Substance: TOCILIZUMAB
     Route: 042
  39. ACTEMRA [Suspect]
     Active Substance: TOCILIZUMAB
     Route: 050
  40. ACTEMRA [Suspect]
     Active Substance: TOCILIZUMAB
     Route: 065
  41. ACTEMRA [Suspect]
     Active Substance: TOCILIZUMAB
     Route: 042
  42. AIMOVIG [Suspect]
     Active Substance: ERENUMAB-AOOE
     Indication: Product used for unknown indication
     Route: 065
  43. AIMOVIG [Suspect]
     Active Substance: ERENUMAB-AOOE
     Indication: Migraine
     Route: 065
  44. ALENDRONATE SODIUM [Suspect]
     Active Substance: ALENDRONATE SODIUM
     Indication: Rheumatoid arthritis
     Route: 048
  45. ALENDRONATE SODIUM [Suspect]
     Active Substance: ALENDRONATE SODIUM
     Indication: Product used for unknown indication
     Route: 065
  46. LEFLUNOMIDE [Suspect]
     Active Substance: LEFLUNOMIDE
     Indication: Rheumatoid arthritis
     Route: 065
  47. LEFLUNOMIDE [Suspect]
     Active Substance: LEFLUNOMIDE
     Route: 048
  48. LEFLUNOMIDE [Suspect]
     Active Substance: LEFLUNOMIDE
     Route: 065
  49. LEFLUNOMIDE [Suspect]
     Active Substance: LEFLUNOMIDE
     Route: 048
  50. LEFLUNOMIDE [Suspect]
     Active Substance: LEFLUNOMIDE
     Dosage: 20 MG, QD
     Route: 048
  51. LEFLUNOMIDE [Suspect]
     Active Substance: LEFLUNOMIDE
     Dosage: 20 MG, QD
     Route: 048
  52. LEFLUNOMIDE [Suspect]
     Active Substance: LEFLUNOMIDE
     Route: 048
  53. PREDNISONE [Suspect]
     Active Substance: PREDNISONE
     Indication: Rheumatoid arthritis
     Route: 048
  54. PREDNISONE [Suspect]
     Active Substance: PREDNISONE
     Indication: Product used for unknown indication
     Dosage: UNK, QD
     Route: 048
  55. PREDNISONE [Suspect]
     Active Substance: PREDNISONE
     Route: 048
  56. PREDNISONE [Suspect]
     Active Substance: PREDNISONE
     Route: 065
  57. PREDNISONE [Suspect]
     Active Substance: PREDNISONE
     Dosage: 20 MG, QD
     Route: 048
  58. PREDNISONE [Suspect]
     Active Substance: PREDNISONE
     Route: 065
  59. PREDNISONE [Suspect]
     Active Substance: PREDNISONE
     Route: 065
  60. PREDNISONE [Suspect]
     Active Substance: PREDNISONE
     Dosage: 50 MILLIGRAM, Q24H
     Route: 048
  61. PREDNISONE [Suspect]
     Active Substance: PREDNISONE
     Dosage: UNK UNK, Q24H
     Route: 048
  62. PREDNISONE [Suspect]
     Active Substance: PREDNISONE
     Route: 065
  63. PREDNISONE [Suspect]
     Active Substance: PREDNISONE
     Route: 048
  64. PREDNISONE [Suspect]
     Active Substance: PREDNISONE
     Route: 048
  65. PREDNISONE [Suspect]
     Active Substance: PREDNISONE
     Dosage: 20 MILLIGRAM, Q24H
     Route: 048
  66. PREDNISONE [Suspect]
     Active Substance: PREDNISONE
     Dosage: UNK, Q24H
     Route: 048
  67. PREDNISONE [Suspect]
     Active Substance: PREDNISONE
     Route: 065
  68. PREDNISONE [Suspect]
     Active Substance: PREDNISONE
     Route: 065
  69. PREDNISONE [Suspect]
     Active Substance: PREDNISONE
     Route: 065
  70. PREDNISONE [Suspect]
     Active Substance: PREDNISONE
     Dosage: 1 DOSAGE FORMS, QD
     Route: 048
  71. PREDNISONE [Suspect]
     Active Substance: PREDNISONE
     Dosage: 20 MG, QD
     Route: 065
  72. PREDNISONE [Suspect]
     Active Substance: PREDNISONE
     Route: 065
  73. PREDNISONE [Suspect]
     Active Substance: PREDNISONE
     Dosage: 1 DOSAGE FORMS, QD
     Route: 065
  74. PREDNISONE [Suspect]
     Active Substance: PREDNISONE
     Dosage: 1 DOSAGE FORMS, QD
     Route: 050
  75. PREDNISONE [Suspect]
     Active Substance: PREDNISONE
     Route: 065
  76. APREMILAST [Suspect]
     Active Substance: APREMILAST
     Indication: Product used for unknown indication
     Route: 065
  77. APREMILAST [Suspect]
     Active Substance: APREMILAST
     Route: 065
  78. ARAVA [Suspect]
     Active Substance: LEFLUNOMIDE
     Indication: Rheumatoid arthritis
     Route: 005
  79. ARAVA [Suspect]
     Active Substance: LEFLUNOMIDE
     Indication: Product used for unknown indication
     Route: 065
  80. ARAVA [Suspect]
     Active Substance: LEFLUNOMIDE
     Route: 048
  81. ARAVA [Suspect]
     Active Substance: LEFLUNOMIDE
     Dosage: 20 MILLIGRAM, Q24H
     Route: 048
  82. ARAVA [Suspect]
     Active Substance: LEFLUNOMIDE
     Route: 065
  83. ARAVA [Suspect]
     Active Substance: LEFLUNOMIDE
     Dosage: 20 MILLIGRAM, Q24H
     Route: 048
  84. ARAVA [Suspect]
     Active Substance: LEFLUNOMIDE
     Route: 050
  85. ATOMOXETINE [Suspect]
     Active Substance: ATOMOXETINE
     Indication: Migraine
     Route: 065
  86. ATOMOXETINE [Suspect]
     Active Substance: ATOMOXETINE
     Route: 065
  87. AZATHIOPRINE SODIUM [Suspect]
     Active Substance: AZATHIOPRINE SODIUM
     Indication: Product used for unknown indication
     Route: 065
  88. BERINERT [Suspect]
     Active Substance: HUMAN C1-ESTERASE INHIBITOR
     Indication: Product used for unknown indication
     Route: 065
  89. BOTULINUM TOXIN TYPE A [Suspect]
     Active Substance: BOTULINUM TOXIN TYPE A
     Indication: Product used for unknown indication
     Route: 065
  90. BUTRANS [Suspect]
     Active Substance: BUPRENORPHINE
     Indication: Product used for unknown indication
     Route: 065
  91. CANDESARTAN [Suspect]
     Active Substance: CANDESARTAN
     Indication: Migraine
     Route: 048
  92. CANDESARTAN [Suspect]
     Active Substance: CANDESARTAN
     Route: 048
  93. CANDESARTAN [Suspect]
     Active Substance: CANDESARTAN
     Route: 065
  94. CERTOLIZUMAB PEGOL [Suspect]
     Active Substance: CERTOLIZUMAB PEGOL
     Indication: Product used for unknown indication
     Route: 058
  95. CERTOLIZUMAB PEGOL [Suspect]
     Active Substance: CERTOLIZUMAB PEGOL
     Route: 058
  96. CERTOLIZUMAB PEGOL [Suspect]
     Active Substance: CERTOLIZUMAB PEGOL
     Route: 065
  97. CERTOLIZUMAB PEGOL [Suspect]
     Active Substance: CERTOLIZUMAB PEGOL
     Route: 016
  98. CERTOLIZUMAB PEGOL [Suspect]
     Active Substance: CERTOLIZUMAB PEGOL
     Route: 065
  99. CERTOLIZUMAB PEGOL [Suspect]
     Active Substance: CERTOLIZUMAB PEGOL
     Route: 005
  100. CETIRIZINE HYDROCHLORIDE [Suspect]
     Active Substance: CETIRIZINE HYDROCHLORIDE
     Indication: Rheumatoid arthritis
     Route: 065
  101. CETIRIZINE HYDROCHLORIDE [Suspect]
     Active Substance: CETIRIZINE HYDROCHLORIDE
     Indication: Product used for unknown indication
     Route: 005
  102. CETIRIZINE HYDROCHLORIDE [Suspect]
     Active Substance: CETIRIZINE HYDROCHLORIDE
     Route: 065
  103. CETIRIZINE HYDROCHLORIDE [Suspect]
     Active Substance: CETIRIZINE HYDROCHLORIDE
     Route: 065
  104. CETIRIZINE HYDROCHLORIDE [Suspect]
     Active Substance: CETIRIZINE HYDROCHLORIDE
     Route: 048
  105. CETIRIZINE HYDROCHLORIDE [Suspect]
     Active Substance: CETIRIZINE HYDROCHLORIDE
     Route: 065
  106. CETIRIZINE HYDROCHLORIDE [Suspect]
     Active Substance: CETIRIZINE HYDROCHLORIDE
     Route: 048
  107. CETIRIZINE HYDROCHLORIDE [Suspect]
     Active Substance: CETIRIZINE HYDROCHLORIDE
     Route: 048
  108. CHLORHEXIDINE GLUCONATE [Suspect]
     Active Substance: CHLORHEXIDINE GLUCONATE
     Indication: Product used for unknown indication
     Route: 065
  109. CHLORHEXIDINE GLUCONATE [Suspect]
     Active Substance: CHLORHEXIDINE GLUCONATE
     Route: 061
  110. CHLORHEXIDINE GLUCONATE [Suspect]
     Active Substance: CHLORHEXIDINE GLUCONATE
     Route: 002
  111. CIMZIA [Suspect]
     Active Substance: CERTOLIZUMAB PEGOL
     Indication: Rheumatoid arthritis
     Route: 058
  112. CIMZIA [Suspect]
     Active Substance: CERTOLIZUMAB PEGOL
     Indication: Psoriasis
     Route: 058
  113. CIMZIA [Suspect]
     Active Substance: CERTOLIZUMAB PEGOL
     Indication: Product used for unknown indication
     Route: 058
  114. CIMZIA [Suspect]
     Active Substance: CERTOLIZUMAB PEGOL
     Route: 065
  115. CIMZIA [Suspect]
     Active Substance: CERTOLIZUMAB PEGOL
     Route: 005
  116. CIMZIA [Suspect]
     Active Substance: CERTOLIZUMAB PEGOL
     Route: 058
  117. CIMZIA [Suspect]
     Active Substance: CERTOLIZUMAB PEGOL
     Route: 058
  118. CORTISONE ACETATE [Suspect]
     Active Substance: CORTISONE ACETATE
     Indication: Rheumatoid arthritis
     Route: 065
  119. CORTISONE ACETATE [Suspect]
     Active Substance: CORTISONE ACETATE
     Indication: Product used for unknown indication
     Route: 048
  120. CORTISONE ACETATE [Suspect]
     Active Substance: CORTISONE ACETATE
     Route: 061
  121. CORTISONE ACETATE [Suspect]
     Active Substance: CORTISONE ACETATE
     Route: 065
  122. CORTISONE ACETATE [Suspect]
     Active Substance: CORTISONE ACETATE
     Route: 065
  123. COSENTYX [Suspect]
     Active Substance: SECUKINUMAB
     Indication: Rheumatoid arthritis
     Route: 065
  124. COSENTYX [Suspect]
     Active Substance: SECUKINUMAB
     Indication: Psoriatic arthropathy
     Route: 005
  125. COSENTYX [Suspect]
     Active Substance: SECUKINUMAB
     Indication: Product used for unknown indication
     Route: 065
  126. COSENTYX [Suspect]
     Active Substance: SECUKINUMAB
     Route: 065
  127. COSENTYX [Suspect]
     Active Substance: SECUKINUMAB
     Route: 065
  128. COSENTYX [Suspect]
     Active Substance: SECUKINUMAB
     Route: 065
  129. DESOXIMETASONE [Suspect]
     Active Substance: DESOXIMETASONE
     Indication: Rheumatoid arthritis
     Route: 048
  130. DESOXIMETASONE [Suspect]
     Active Substance: DESOXIMETASONE
     Indication: Product used for unknown indication
     Route: 058
  131. DESOXIMETASONE [Suspect]
     Active Substance: DESOXIMETASONE
     Route: 048
  132. DESOXIMETASONE [Suspect]
     Active Substance: DESOXIMETASONE
     Route: 003
  133. DESOXIMETASONE [Suspect]
     Active Substance: DESOXIMETASONE
     Route: 065
  134. DICLOFENAC DIETHYLAMINE [Suspect]
     Active Substance: DICLOFENAC DIETHYLAMINE
     Indication: Product used for unknown indication
     Route: 065
  135. DICLOFENAC SODIUM [Suspect]
     Active Substance: DICLOFENAC SODIUM
     Indication: Product used for unknown indication
     Route: 065
  136. DICLOFENAC SODIUM [Suspect]
     Active Substance: DICLOFENAC SODIUM
     Route: 065
  137. DICLOFENAC SODIUM [Suspect]
     Active Substance: DICLOFENAC SODIUM
     Route: 058
  138. DICLOFENAC SODIUM [Suspect]
     Active Substance: DICLOFENAC SODIUM
     Route: 065
  139. DICLOFENAC SODIUM [Suspect]
     Active Substance: DICLOFENAC SODIUM
     Route: 065
  140. DICLOFENAC SODIUM [Suspect]
     Active Substance: DICLOFENAC SODIUM
     Route: 065
  141. DICLOFENAC SODIUM [Suspect]
     Active Substance: DICLOFENAC SODIUM
     Route: 065
  142. DICLOFENAC SODIUM [Suspect]
     Active Substance: DICLOFENAC SODIUM
     Route: 050
  143. DICLOFENAC SODIUM [Suspect]
     Active Substance: DICLOFENAC SODIUM
     Route: 050
  144. DICLOFENAC SODIUM [Suspect]
     Active Substance: DICLOFENAC SODIUM
     Route: 050
  145. DOMPERIDONE MALEATE [Suspect]
     Active Substance: DOMPERIDONE MALEATE
     Indication: Product used for unknown indication
     Route: 065
  146. ENBREL [Suspect]
     Active Substance: ETANERCEPT
     Indication: Rheumatoid arthritis
     Route: 065
  147. ENBREL [Suspect]
     Active Substance: ETANERCEPT
     Indication: Product used for unknown indication
     Dosage: 50 MG, QWEEK
     Route: 058
  148. ENBREL [Suspect]
     Active Substance: ETANERCEPT
     Route: 065
  149. ENBREL [Suspect]
     Active Substance: ETANERCEPT
     Route: 065
  150. ENBREL [Suspect]
     Active Substance: ETANERCEPT
     Route: 058
  151. ENBREL [Suspect]
     Active Substance: ETANERCEPT
     Route: 058
  152. ENBREL [Suspect]
     Active Substance: ETANERCEPT
     Route: 058
  153. ENBREL [Suspect]
     Active Substance: ETANERCEPT
     Route: 058
  154. ENBREL [Suspect]
     Active Substance: ETANERCEPT
     Route: 058
  155. ENBREL [Suspect]
     Active Substance: ETANERCEPT
     Route: 058
  156. ENBREL [Suspect]
     Active Substance: ETANERCEPT
     Route: 058
  157. ENBREL [Suspect]
     Active Substance: ETANERCEPT
     Route: 058
  158. ENBREL [Suspect]
     Active Substance: ETANERCEPT
     Route: 065
  159. ENBREL [Suspect]
     Active Substance: ETANERCEPT
     Route: 058
  160. ENBREL [Suspect]
     Active Substance: ETANERCEPT
     Route: 065
  161. ENBREL [Suspect]
     Active Substance: ETANERCEPT
     Route: 065
  162. ENBREL [Suspect]
     Active Substance: ETANERCEPT
     Route: 058
  163. ENBREL [Suspect]
     Active Substance: ETANERCEPT
     Route: 058
  164. ENBREL [Suspect]
     Active Substance: ETANERCEPT
     Route: 050
  165. ENBREL [Suspect]
     Active Substance: ETANERCEPT
     Route: 058
  166. ENBREL [Suspect]
     Active Substance: ETANERCEPT
     Route: 065
  167. ENBREL [Suspect]
     Active Substance: ETANERCEPT
     Route: 058
  168. ERGOCALCIFEROL\RETINOL [Suspect]
     Active Substance: ERGOCALCIFEROL\RETINOL
     Indication: Product used for unknown indication
     Route: 065
  169. FLUMETHASONE [Suspect]
     Active Substance: FLUMETHASONE
     Indication: Product used for unknown indication
     Route: 065
  170. FLUMETHASONE [Suspect]
     Active Substance: FLUMETHASONE
     Route: 058
  171. FLUMETHASONE PIVALATE [Suspect]
     Active Substance: FLUMETHASONE PIVALATE
     Indication: Product used for unknown indication
     Route: 065
  172. FOLIC ACID [Suspect]
     Active Substance: FOLIC ACID
     Indication: Rheumatoid arthritis
     Route: 058
  173. FOLIC ACID [Suspect]
     Active Substance: FOLIC ACID
     Indication: Product used for unknown indication
     Route: 048
  174. FOLIC ACID [Suspect]
     Active Substance: FOLIC ACID
     Route: 065
  175. FOLIC ACID [Suspect]
     Active Substance: FOLIC ACID
     Route: 065
  176. FOLIC ACID [Suspect]
     Active Substance: FOLIC ACID
     Route: 065
  177. FOLIC ACID [Suspect]
     Active Substance: FOLIC ACID
     Route: 065
  178. FOLIC ACID [Suspect]
     Active Substance: FOLIC ACID
     Route: 065
  179. FOLIC ACID [Suspect]
     Active Substance: FOLIC ACID
     Route: 048
  180. FOLIC ACID [Suspect]
     Active Substance: FOLIC ACID
     Route: 048
  181. FOLIC ACID [Suspect]
     Active Substance: FOLIC ACID
     Route: 048
  182. FOLIC ACID [Suspect]
     Active Substance: FOLIC ACID
     Route: 065
  183. FOLIC ACID [Suspect]
     Active Substance: FOLIC ACID
     Route: 065
  184. FOLIC ACID [Suspect]
     Active Substance: FOLIC ACID
     Route: 048
  185. FOLIC ACID [Suspect]
     Active Substance: FOLIC ACID
     Route: 048
  186. FOLIC ACID [Suspect]
     Active Substance: FOLIC ACID
     Route: 048
  187. FOLIC ACID [Suspect]
     Active Substance: FOLIC ACID
     Route: 048
  188. FOLIC ACID [Suspect]
     Active Substance: FOLIC ACID
     Route: 065
  189. FOLIC ACID [Suspect]
     Active Substance: FOLIC ACID
     Route: 048
  190. FOLIC ACID [Suspect]
     Active Substance: FOLIC ACID
     Route: 058
  191. FOLIC ACID [Suspect]
     Active Substance: FOLIC ACID
     Route: 065
  192. FOLIC ACID [Suspect]
     Active Substance: FOLIC ACID
     Route: 065
  193. FOLIC ACID [Suspect]
     Active Substance: FOLIC ACID
     Route: 065
  194. FOLIC ACID [Suspect]
     Active Substance: FOLIC ACID
     Route: 065
  195. FOLIC ACID [Suspect]
     Active Substance: FOLIC ACID
     Route: 065
  196. FOLIC ACID [Suspect]
     Active Substance: FOLIC ACID
     Route: 050
  197. FOSAMAX [Suspect]
     Active Substance: ALENDRONATE SODIUM
     Indication: Rheumatoid arthritis
     Route: 016
  198. FOSAMAX [Suspect]
     Active Substance: ALENDRONATE SODIUM
     Indication: Product used for unknown indication
     Route: 058
  199. FOSAMAX [Suspect]
     Active Substance: ALENDRONATE SODIUM
     Route: 048
  200. FOSAMAX [Suspect]
     Active Substance: ALENDRONATE SODIUM
     Route: 005
  201. FOSAMAX [Suspect]
     Active Substance: ALENDRONATE SODIUM
     Route: 065
  202. FOSAMAX [Suspect]
     Active Substance: ALENDRONATE SODIUM
     Route: 065
  203. FOSAMAX [Suspect]
     Active Substance: ALENDRONATE SODIUM
     Route: 050
  204. GOLD [Suspect]
     Active Substance: GOLD
     Indication: Product used for unknown indication
     Route: 065
  205. GOLD SODIUM THIOMALATE [Suspect]
     Active Substance: GOLD SODIUM THIOMALATE
     Indication: Product used for unknown indication
     Route: 065
  206. GOLIMUMAB [Suspect]
     Active Substance: GOLIMUMAB
     Indication: Rheumatoid arthritis
     Route: 065
  207. GOLIMUMAB [Suspect]
     Active Substance: GOLIMUMAB
     Indication: Prostatic specific antigen
     Route: 058
  208. GOLIMUMAB [Suspect]
     Active Substance: GOLIMUMAB
     Indication: Product used for unknown indication
     Route: 065
  209. GOLIMUMAB [Suspect]
     Active Substance: GOLIMUMAB
     Route: 058
  210. GOLIMUMAB [Suspect]
     Active Substance: GOLIMUMAB
     Route: 058
  211. HUMIRA [Suspect]
     Active Substance: ADALIMUMAB
     Indication: Rheumatoid arthritis
     Route: 057
  212. HUMIRA [Suspect]
     Active Substance: ADALIMUMAB
     Indication: Product used for unknown indication
     Route: 058
  213. HUMIRA [Suspect]
     Active Substance: ADALIMUMAB
     Route: 058
  214. HUMIRA [Suspect]
     Active Substance: ADALIMUMAB
     Route: 058
  215. HUMIRA [Suspect]
     Active Substance: ADALIMUMAB
     Route: 065
  216. HUMIRA [Suspect]
     Active Substance: ADALIMUMAB
     Route: 058
  217. HUMIRA [Suspect]
     Active Substance: ADALIMUMAB
     Route: 058
  218. HYDROCORTISONE ACETATE [Suspect]
     Active Substance: HYDROCORTISONE ACETATE
     Indication: Product used for unknown indication
     Route: 065
  219. HYDROCORTISONE ACETATE [Suspect]
     Active Substance: HYDROCORTISONE ACETATE
     Indication: Rheumatoid arthritis
     Route: 048
  220. HYDROCORTISONE ACETATE [Suspect]
     Active Substance: HYDROCORTISONE ACETATE
     Route: 065
  221. HYDROXYCHLOROQUINE [Suspect]
     Active Substance: HYDROXYCHLOROQUINE
     Indication: Rheumatoid arthritis
     Route: 065
  222. HYDROXYCHLOROQUINE [Suspect]
     Active Substance: HYDROXYCHLOROQUINE
     Indication: Product used for unknown indication
     Route: 065
  223. HYDROXYCHLOROQUINE [Suspect]
     Active Substance: HYDROXYCHLOROQUINE
     Route: 065
  224. HYDROXYCHLOROQUINE [Suspect]
     Active Substance: HYDROXYCHLOROQUINE
     Dosage: 400 MG, QD
     Route: 048
  225. HYDROXYCHLOROQUINE [Suspect]
     Active Substance: HYDROXYCHLOROQUINE
     Dosage: 40 MG, QD
     Route: 048
  226. HYDROXYCHLOROQUINE [Suspect]
     Active Substance: HYDROXYCHLOROQUINE
     Route: 005
  227. HYDROXYCHLOROQUINE [Suspect]
     Active Substance: HYDROXYCHLOROQUINE
     Dosage: UNK, QD
     Route: 058
  228. HYDROXYCHLOROQUINE [Suspect]
     Active Substance: HYDROXYCHLOROQUINE
     Dosage: UNK, QD
     Route: 048
  229. HYDROXYCHLOROQUINE [Suspect]
     Active Substance: HYDROXYCHLOROQUINE
     Route: 065
  230. HYDROXYCHLOROQUINE [Suspect]
     Active Substance: HYDROXYCHLOROQUINE
     Route: 048
  231. HYDROXYCHLOROQUINE [Suspect]
     Active Substance: HYDROXYCHLOROQUINE
     Dosage: UNK, QD
     Route: 058
  232. HYDROXYCHLOROQUINE [Suspect]
     Active Substance: HYDROXYCHLOROQUINE
     Route: 065
  233. HYDROXYCHLOROQUINE [Suspect]
     Active Substance: HYDROXYCHLOROQUINE
     Dosage: 40 MG, QD
     Route: 065
  234. HYDROXYCHLOROQUINE [Suspect]
     Active Substance: HYDROXYCHLOROQUINE
     Route: 065
  235. HYDROXYCHLOROQUINE [Suspect]
     Active Substance: HYDROXYCHLOROQUINE
     Dosage: 400 MILLIGRAM, Q24H
     Route: 048
  236. HYDROXYCHLOROQUINE [Suspect]
     Active Substance: HYDROXYCHLOROQUINE
     Dosage: 400 MILLIGRAM, Q24H
     Route: 065
  237. HYDROXYCHLOROQUINE [Suspect]
     Active Substance: HYDROXYCHLOROQUINE
     Dosage: 600 MILLIGRAM, QD
     Route: 048
  238. HYDROXYCHLOROQUINE [Suspect]
     Active Substance: HYDROXYCHLOROQUINE
     Route: 016
  239. HYDROXYCHLOROQUINE [Suspect]
     Active Substance: HYDROXYCHLOROQUINE
     Dosage: 400 MILLIGRAM, QD
     Route: 065
  240. HYDROXYCHLOROQUINE [Suspect]
     Active Substance: HYDROXYCHLOROQUINE
     Dosage: 400 MILLIGRAM, QD
     Route: 065
  241. HYDROXYCHLOROQUINE [Suspect]
     Active Substance: HYDROXYCHLOROQUINE
     Route: 065
  242. HYDROXYCHLOROQUINE [Suspect]
     Active Substance: HYDROXYCHLOROQUINE
     Dosage: UNK, QD
     Route: 048
  243. HYDROXYCHLOROQUINE [Suspect]
     Active Substance: HYDROXYCHLOROQUINE
     Dosage: UNK, QD
     Route: 048
  244. HYDROXYCHLOROQUINE [Suspect]
     Active Substance: HYDROXYCHLOROQUINE
     Dosage: 400 MILLIGRAM, QD
     Route: 065
  245. HYDROXYCHLOROQUINE [Suspect]
     Active Substance: HYDROXYCHLOROQUINE
     Dosage: UNK, QD
     Route: 058
  246. HYDROXYCHLOROQUINE [Suspect]
     Active Substance: HYDROXYCHLOROQUINE
     Dosage: UNK, QD
     Route: 058
  247. INFLIXIMAB [Suspect]
     Active Substance: INFLIXIMAB
     Indication: Rheumatoid arthritis
     Route: 042
  248. INFLIXIMAB [Suspect]
     Active Substance: INFLIXIMAB
     Indication: Product used for unknown indication
     Route: 065
  249. INFLIXIMAB [Suspect]
     Active Substance: INFLIXIMAB
     Route: 042
  250. INFLIXIMAB [Suspect]
     Active Substance: INFLIXIMAB
     Route: 042
  251. INFLIXIMAB [Suspect]
     Active Substance: INFLIXIMAB
     Route: 065
  252. INFLIXIMAB [Suspect]
     Active Substance: INFLIXIMAB
     Route: 065
  253. INFLIXIMAB [Suspect]
     Active Substance: INFLIXIMAB
     Route: 058
  254. INFLIXIMAB [Suspect]
     Active Substance: INFLIXIMAB
     Route: 042
  255. INFLIXIMAB [Suspect]
     Active Substance: INFLIXIMAB
     Route: 042
  256. LAMICTAL [Suspect]
     Active Substance: LAMOTRIGINE
     Indication: Product used for unknown indication
     Route: 048
  257. LAMICTAL [Suspect]
     Active Substance: LAMOTRIGINE
     Route: 048
  258. LEFLUNOMIDE [Suspect]
     Active Substance: LEFLUNOMIDE
     Indication: Rheumatoid arthritis
     Route: 048
  259. LEFLUNOMIDE [Suspect]
     Active Substance: LEFLUNOMIDE
     Indication: Product used for unknown indication
     Dosage: 10 MG, QD
     Route: 048
  260. LEFLUNOMIDE [Suspect]
     Active Substance: LEFLUNOMIDE
     Dosage: 10 MG, QD
     Route: 065
  261. LEFLUNOMIDE [Suspect]
     Active Substance: LEFLUNOMIDE
     Dosage: 20 MG, QD
     Route: 065
  262. LEFLUNOMIDE [Suspect]
     Active Substance: LEFLUNOMIDE
     Route: 065
  263. LEFLUNOMIDE [Suspect]
     Active Substance: LEFLUNOMIDE
     Route: 065
  264. LEFLUNOMIDE [Suspect]
     Active Substance: LEFLUNOMIDE
     Dosage: UNK, QD
     Route: 048
  265. LEFLUNOMIDE [Suspect]
     Active Substance: LEFLUNOMIDE
     Route: 048
  266. LEFLUNOMIDE [Suspect]
     Active Substance: LEFLUNOMIDE
     Route: 065
  267. METHOTREXATE [Suspect]
     Active Substance: METHOTREXATE
     Indication: Rheumatoid arthritis
     Route: 058
  268. METHOTREXATE [Suspect]
     Active Substance: METHOTREXATE
     Indication: Product used for unknown indication
     Dosage: 25 MG, QD
     Route: 048
  269. METHOTREXATE [Suspect]
     Active Substance: METHOTREXATE
     Route: 065
  270. METHOTREXATE [Suspect]
     Active Substance: METHOTREXATE
     Route: 048
  271. METHOTREXATE [Suspect]
     Active Substance: METHOTREXATE
     Route: 013
  272. METHOTREXATE [Suspect]
     Active Substance: METHOTREXATE
     Dosage: UNK, QD
     Route: 048
  273. METHOTREXATE [Suspect]
     Active Substance: METHOTREXATE
     Route: 048
  274. METHOTREXATE [Suspect]
     Active Substance: METHOTREXATE
     Route: 065
  275. METHOTREXATE [Suspect]
     Active Substance: METHOTREXATE
     Route: 065
  276. METHOTREXATE [Suspect]
     Active Substance: METHOTREXATE
     Route: 048
  277. METHOTREXATE [Suspect]
     Active Substance: METHOTREXATE
     Route: 048
  278. METHOTREXATE [Suspect]
     Active Substance: METHOTREXATE
     Route: 048
  279. METHOTREXATE [Suspect]
     Active Substance: METHOTREXATE
     Route: 016
  280. METHOTREXATE [Suspect]
     Active Substance: METHOTREXATE
     Route: 013
  281. METHOTREXATE [Suspect]
     Active Substance: METHOTREXATE
     Dosage: 15 MG, QWEEK
     Route: 058
  282. METHOTREXATE [Suspect]
     Active Substance: METHOTREXATE
     Dosage: 25 MG, QWEEK
     Route: 013
  283. METHOTREXATE [Suspect]
     Active Substance: METHOTREXATE
     Dosage: 25 MG, QWEEK
     Route: 065
  284. METHOTREXATE [Suspect]
     Active Substance: METHOTREXATE
     Route: 048
  285. METHOTREXATE [Suspect]
     Active Substance: METHOTREXATE
     Dosage: 20 MG, QD
     Route: 048
  286. METHYLPREDNISOLONE [Suspect]
     Active Substance: METHYLPREDNISOLONE
     Indication: Product used for unknown indication
     Route: 065
  287. METHYLPREDNISOLONE [Suspect]
     Active Substance: METHYLPREDNISOLONE
     Route: 065
  288. METHYLPREDNISOLONE SODIUM SUCCINATE [Suspect]
     Active Substance: METHYLPREDNISOLONE SODIUM SUCCINATE
     Indication: Product used for unknown indication
     Route: 065
  289. MINOCYCLINE [Suspect]
     Active Substance: MINOCYCLINE HYDROCHLORIDE
     Indication: Product used for unknown indication
     Route: 065
  290. MINOCYCLINE [Suspect]
     Active Substance: MINOCYCLINE HYDROCHLORIDE
     Indication: Rheumatoid arthritis
  291. MINOCYCLINE HYDROCHLORIDE [Suspect]
     Active Substance: MINOCYCLINE HYDROCHLORIDE
     Indication: Product used for unknown indication
     Route: 065
  292. MINOCYCLINE HYDROCHLORIDE [Suspect]
     Active Substance: MINOCYCLINE HYDROCHLORIDE
     Indication: Rheumatoid arthritis
     Route: 065
  293. MYOCHRYSINE [Suspect]
     Active Substance: GOLD SODIUM THIOMALATE
     Indication: Rheumatoid arthritis
     Route: 030
  294. MYOCHRYSINE [Suspect]
     Active Substance: GOLD SODIUM THIOMALATE
     Route: 050
  295. MYRBETRIQ [Suspect]
     Active Substance: MIRABEGRON
     Indication: Product used for unknown indication
     Route: 065
  296. MYRBETRIQ [Suspect]
     Active Substance: MIRABEGRON
     Dosage: 1 DOSAGE FORM, QD
     Route: 065
  297. MYRBETRIQ [Suspect]
     Active Substance: MIRABEGRON
     Route: 065
  298. MYRBETRIQ [Suspect]
     Active Substance: MIRABEGRON
     Dosage: 1 DOSAGE FORM, QD
     Route: 065
  299. MYRBETRIQ [Suspect]
     Active Substance: MIRABEGRON
     Dosage: UNK, QD
     Route: 065
  300. NAPROXEN [Suspect]
     Active Substance: NAPROXEN
     Indication: Product used for unknown indication
     Route: 065
  301. NICOTINAMIDE [Suspect]
     Active Substance: NIACINAMIDE
     Indication: Product used for unknown indication
     Route: 065
  302. NUCALA [Suspect]
     Active Substance: MEPOLIZUMAB
     Indication: Product used for unknown indication
     Route: 065
  303. ORENCIA [Suspect]
     Active Substance: ABATACEPT
     Indication: Rheumatoid arthritis
     Route: 065
  304. ORENCIA [Suspect]
     Active Substance: ABATACEPT
     Indication: Product used for unknown indication
     Route: 065
  305. ORENCIA [Suspect]
     Active Substance: ABATACEPT
     Route: 065
  306. ORENCIA [Suspect]
     Active Substance: ABATACEPT
     Route: 042
  307. ORENCIA [Suspect]
     Active Substance: ABATACEPT
     Route: 058
  308. ORENCIA [Suspect]
     Active Substance: ABATACEPT
     Route: 042
  309. ORENCIA [Suspect]
     Active Substance: ABATACEPT
     Route: 058
  310. ORENCIA [Suspect]
     Active Substance: ABATACEPT
     Dosage: 125 MG, QWEEK
     Route: 058
  311. ORENCIA [Suspect]
     Active Substance: ABATACEPT
     Route: 058
  312. ORENCIA [Suspect]
     Active Substance: ABATACEPT
     Route: 042
  313. ORENCIA [Suspect]
     Active Substance: ABATACEPT
     Route: 042
  314. ORENCIA [Suspect]
     Active Substance: ABATACEPT
     Route: 042
  315. ORENCIA [Suspect]
     Active Substance: ABATACEPT
     Route: 042
  316. ORENCIA [Suspect]
     Active Substance: ABATACEPT
     Route: 042
  317. ORENCIA [Suspect]
     Active Substance: ABATACEPT
     Route: 058
  318. OXYCODONE [Suspect]
     Active Substance: OXYCODONE
     Indication: Product used for unknown indication
     Route: 065
  319. OXYCODONE [Suspect]
     Active Substance: OXYCODONE
     Route: 065
  320. OXYCODONE TEREPHTHALATE [Suspect]
     Active Substance: OXYCODONE TEREPHTHALATE
     Indication: Product used for unknown indication
     Route: 065
  321. PHENYLEPHRINE HYDROCHLORIDE [Suspect]
     Active Substance: PHENYLEPHRINE HYDROCHLORIDE
     Indication: Rheumatoid arthritis
     Route: 065
  322. PHTHALYLSULFATHIAZOLE [Suspect]
     Active Substance: PHTHALYLSULFATHIAZOLE
     Indication: Rheumatoid arthritis
     Dosage: 500 MG, QD
     Route: 048
  323. PHTHALYLSULFATHIAZOLE [Suspect]
     Active Substance: PHTHALYLSULFATHIAZOLE
     Indication: Product used for unknown indication
     Route: 042
  324. PHTHALYLSULFATHIAZOLE [Suspect]
     Active Substance: PHTHALYLSULFATHIAZOLE
     Route: 065
  325. PHTHALYLSULFATHIAZOLE [Suspect]
     Active Substance: PHTHALYLSULFATHIAZOLE
     Dosage: 2000 MG, QD
     Route: 048
  326. PHTHALYLSULFATHIAZOLE [Suspect]
     Active Substance: PHTHALYLSULFATHIAZOLE
     Route: 065
  327. PHTHALYLSULFATHIAZOLE [Suspect]
     Active Substance: PHTHALYLSULFATHIAZOLE
     Route: 058
  328. PHTHALYLSULFATHIAZOLE [Suspect]
     Active Substance: PHTHALYLSULFATHIAZOLE
     Route: 048
  329. PHTHALYLSULFATHIAZOLE [Suspect]
     Active Substance: PHTHALYLSULFATHIAZOLE
     Route: 065
  330. PHTHALYLSULFATHIAZOLE [Suspect]
     Active Substance: PHTHALYLSULFATHIAZOLE
     Route: 048
  331. PHTHALYLSULFATHIAZOLE [Suspect]
     Active Substance: PHTHALYLSULFATHIAZOLE
     Dosage: 2000 MG, QD
     Route: 050
  332. PHTHALYLSULFATHIAZOLE [Suspect]
     Active Substance: PHTHALYLSULFATHIAZOLE
     Route: 065
  333. PHTHALYLSULFATHIAZOLE [Suspect]
     Active Substance: PHTHALYLSULFATHIAZOLE
     Dosage: 2000 MG, QD
     Route: 050
  334. PHTHALYLSULFATHIAZOLE [Suspect]
     Active Substance: PHTHALYLSULFATHIAZOLE
     Route: 050
  335. PHTHALYLSULFATHIAZOLE [Suspect]
     Active Substance: PHTHALYLSULFATHIAZOLE
     Dosage: 2000 MG, QD
     Route: 050
  336. PHTHALYLSULFATHIAZOLE [Suspect]
     Active Substance: PHTHALYLSULFATHIAZOLE
     Dosage: 2000 MG, QD
     Route: 065
  337. PHTHALYLSULFATHIAZOLE [Suspect]
     Active Substance: PHTHALYLSULFATHIAZOLE
     Route: 048
  338. PHTHALYLSULFATHIAZOLE [Suspect]
     Active Substance: PHTHALYLSULFATHIAZOLE
     Route: 050
  339. PHTHALYLSULFATHIAZOLE [Suspect]
     Active Substance: PHTHALYLSULFATHIAZOLE
     Dosage: 200 MG, QD
     Route: 050
  340. PHTHALYLSULFATHIAZOLE [Suspect]
     Active Substance: PHTHALYLSULFATHIAZOLE
     Route: 058
  341. PHTHALYLSULFATHIAZOLE [Suspect]
     Active Substance: PHTHALYLSULFATHIAZOLE
     Dosage: 2000 MG, QD
     Route: 050
  342. PHTHALYLSULFATHIAZOLE [Suspect]
     Active Substance: PHTHALYLSULFATHIAZOLE
     Dosage: 200 MG, QD
     Route: 050
  343. PHTHALYLSULFATHIAZOLE [Suspect]
     Active Substance: PHTHALYLSULFATHIAZOLE
     Dosage: 2000 MG, QD
     Route: 065
  344. PREDNISONE [Suspect]
     Active Substance: PREDNISONE
     Indication: Rheumatoid arthritis
     Route: 048
  345. PREDNISONE [Suspect]
     Active Substance: PREDNISONE
     Indication: Product used for unknown indication
     Route: 048
  346. PREDNISONE [Suspect]
     Active Substance: PREDNISONE
     Route: 065
  347. PREDNISONE [Suspect]
     Active Substance: PREDNISONE
     Dosage: UNK, QD
     Route: 065
  348. PREDNISONE [Suspect]
     Active Substance: PREDNISONE
     Route: 065
  349. PREDNISONE [Suspect]
     Active Substance: PREDNISONE
     Route: 048
  350. PREDNISONE [Suspect]
     Active Substance: PREDNISONE
     Dosage: 50 MG, QD
     Route: 048
  351. PREDNISONE [Suspect]
     Active Substance: PREDNISONE
     Dosage: 20 MG, QD
     Route: 048
  352. PREDNISONE [Suspect]
     Active Substance: PREDNISONE
     Route: 065
  353. PREDNISONE [Suspect]
     Active Substance: PREDNISONE
     Dosage: 50 MILLIGRAM, Q24H
     Route: 048
  354. PREDNISONE [Suspect]
     Active Substance: PREDNISONE
     Dosage: 2 MILLIGRAM, Q24H
     Route: 048
  355. PSEUDOEPHEDRINE HYDROCHLORIDE [Suspect]
     Active Substance: PSEUDOEPHEDRINE HYDROCHLORIDE
     Indication: Rheumatoid arthritis
     Route: 065
  356. PSEUDOEPHEDRINE HYDROCHLORIDE [Suspect]
     Active Substance: PSEUDOEPHEDRINE HYDROCHLORIDE
     Indication: Product used for unknown indication
     Route: 065
  357. PSEUDOEPHEDRINE HYDROCHLORIDE [Suspect]
     Active Substance: PSEUDOEPHEDRINE HYDROCHLORIDE
     Route: 065
  358. PSEUDOEPHEDRINE HYDROCHLORIDE [Suspect]
     Active Substance: PSEUDOEPHEDRINE HYDROCHLORIDE
     Route: 065
  359. PSEUDOEPHEDRINE HYDROCHLORIDE [Suspect]
     Active Substance: PSEUDOEPHEDRINE HYDROCHLORIDE
     Route: 065
  360. PSEUDOEPHEDRINE HYDROCHLORIDE [Suspect]
     Active Substance: PSEUDOEPHEDRINE HYDROCHLORIDE
     Route: 065
  361. PSEUDOEPHEDRINE HYDROCHLORIDE [Suspect]
     Active Substance: PSEUDOEPHEDRINE HYDROCHLORIDE
     Route: 065
  362. PSEUDOEPHEDRINE HYDROCHLORIDE [Suspect]
     Active Substance: PSEUDOEPHEDRINE HYDROCHLORIDE
     Route: 065
  363. PSEUDOEPHEDRINE HYDROCHLORIDE [Suspect]
     Active Substance: PSEUDOEPHEDRINE HYDROCHLORIDE
     Route: 065
  364. PSEUDOEPHEDRINE HYDROCHLORIDE [Suspect]
     Active Substance: PSEUDOEPHEDRINE HYDROCHLORIDE
     Route: 065
  365. PSEUDOEPHEDRINE HYDROCHLORIDE [Suspect]
     Active Substance: PSEUDOEPHEDRINE HYDROCHLORIDE
     Route: 065
  366. RITUXIMAB [Suspect]
     Active Substance: RITUXIMAB
     Indication: Product used for unknown indication
     Route: 065
  367. RITUXIMAB [Suspect]
     Active Substance: RITUXIMAB
     Indication: Rheumatoid arthritis
     Route: 016
  368. RITUXIMAB [Suspect]
     Active Substance: RITUXIMAB
     Dosage: 2000 MG, QD
     Route: 065
  369. RITUXIMAB [Suspect]
     Active Substance: RITUXIMAB
     Route: 065
  370. RITUXIMAB [Suspect]
     Active Substance: RITUXIMAB
     Dosage: 2000 MG, QD
     Route: 065
  371. RITUXIMAB [Suspect]
     Active Substance: RITUXIMAB
     Route: 042
  372. RITUXIMAB [Suspect]
     Active Substance: RITUXIMAB
     Dosage: 2 GRAM, QD
     Route: 042
  373. RITUXIMAB [Suspect]
     Active Substance: RITUXIMAB
     Route: 058
  374. RITUXIMAB [Suspect]
     Active Substance: RITUXIMAB
     Route: 043
  375. RITUXIMAB [Suspect]
     Active Substance: RITUXIMAB
     Dosage: 2000 MG, QD
     Route: 065
  376. RITUXIMAB [Suspect]
     Active Substance: RITUXIMAB
     Route: 042
  377. RITUXIMAB [Suspect]
     Active Substance: RITUXIMAB
     Route: 042
  378. RITUXIMAB [Suspect]
     Active Substance: RITUXIMAB
     Dosage: 2000 MILLIGRAM, QD
     Route: 042
  379. RITUXIMAB [Suspect]
     Active Substance: RITUXIMAB
     Dosage: 2000 MILLIGRAM, QD
     Route: 042
  380. RITUXIMAB [Suspect]
     Active Substance: RITUXIMAB
     Route: 041
  381. RITUXIMAB [Suspect]
     Active Substance: RITUXIMAB
     Route: 065
  382. RITUXIMAB [Suspect]
     Active Substance: RITUXIMAB
     Dosage: 2 GRAM, QD
     Route: 065
  383. RITUXIMAB [Suspect]
     Active Substance: RITUXIMAB
     Route: 042
  384. RITUXIMAB [Suspect]
     Active Substance: RITUXIMAB
     Route: 041
  385. RITUXIMAB [Suspect]
     Active Substance: RITUXIMAB
     Route: 065
  386. RITUXIMAB [Suspect]
     Active Substance: RITUXIMAB
     Route: 058
  387. RITUXIMAB [Suspect]
     Active Substance: RITUXIMAB
     Route: 042
  388. RITUXIMAB [Suspect]
     Active Substance: RITUXIMAB
     Route: 065
  389. RITUXIMAB [Suspect]
     Active Substance: RITUXIMAB
     Dosage: 365 MILLIGRAM, QD
     Route: 042
  390. RITUXIMAB [Suspect]
     Active Substance: RITUXIMAB
     Route: 043
  391. RITUXIMAB [Suspect]
     Active Substance: RITUXIMAB
     Route: 065
  392. RITUXIMAB [Suspect]
     Active Substance: RITUXIMAB
     Route: 016
  393. RITUXIMAB [Suspect]
     Active Substance: RITUXIMAB
     Route: 016
  394. RITUXIMAB [Suspect]
     Active Substance: RITUXIMAB
     Dosage: 2 GRAM, QD
     Route: 040
  395. RITUXIMAB [Suspect]
     Active Substance: RITUXIMAB
     Dosage: 2000 MG, QD
     Route: 042
  396. RITUXIMAB [Suspect]
     Active Substance: RITUXIMAB
     Route: 042
  397. RITUXIMAB [Suspect]
     Active Substance: RITUXIMAB
     Route: 065
  398. RITUXIMAB [Suspect]
     Active Substance: RITUXIMAB
     Route: 050
  399. RITUXIMAB [Suspect]
     Active Substance: RITUXIMAB
     Route: 050
  400. RITUXIMAB [Suspect]
     Active Substance: RITUXIMAB
     Route: 050
  401. RITUXIMAB [Suspect]
     Active Substance: RITUXIMAB
     Route: 050
  402. RITUXIMAB [Suspect]
     Active Substance: RITUXIMAB
     Route: 050
  403. RITUXIMAB [Suspect]
     Active Substance: RITUXIMAB
     Route: 050
  404. RITUXIMAB [Suspect]
     Active Substance: RITUXIMAB
     Route: 050
  405. RITUXIMAB [Suspect]
     Active Substance: RITUXIMAB
     Route: 050
  406. RITUXIMAB [Suspect]
     Active Substance: RITUXIMAB
     Route: 050
  407. RITUXIMAB [Suspect]
     Active Substance: RITUXIMAB
     Route: 050
  408. RITUXIMAB [Suspect]
     Active Substance: RITUXIMAB
     Route: 050
  409. RITUXIMAB [Suspect]
     Active Substance: RITUXIMAB
     Route: 050
  410. RITUXIMAB [Suspect]
     Active Substance: RITUXIMAB
     Route: 050
  411. RITUXIMAB [Suspect]
     Active Substance: RITUXIMAB
     Route: 050
  412. RITUXIMAB [Suspect]
     Active Substance: RITUXIMAB
     Route: 058
  413. RITUXIMAB [Suspect]
     Active Substance: RITUXIMAB
     Route: 058
  414. RITUXIMAB [Suspect]
     Active Substance: RITUXIMAB
     Route: 065
  415. RITUXIMAB [Suspect]
     Active Substance: RITUXIMAB
     Route: 065
  416. ERELZI [Suspect]
     Active Substance: ETANERCEPT-SZZS
     Indication: Product used for unknown indication
     Route: 065
  417. ERELZI [Suspect]
     Active Substance: ETANERCEPT-SZZS
     Indication: Rheumatoid arthritis
     Route: 058
  418. ERELZI [Suspect]
     Active Substance: ETANERCEPT-SZZS
     Route: 065
  419. ERELZI [Suspect]
     Active Substance: ETANERCEPT-SZZS
     Route: 058
  420. ACETAMINOPHEN [Suspect]
     Active Substance: ACETAMINOPHEN
     Indication: Rheumatoid arthritis
     Route: 065
  421. ACETAMINOPHEN [Suspect]
     Active Substance: ACETAMINOPHEN
     Route: 065
  422. ACETAMINOPHEN [Suspect]
     Active Substance: ACETAMINOPHEN
     Route: 065
  423. ACETAMINOPHEN [Suspect]
     Active Substance: ACETAMINOPHEN
     Route: 065
  424. ACETAMINOPHEN [Suspect]
     Active Substance: ACETAMINOPHEN
     Route: 065
  425. ACETAMINOPHEN [Suspect]
     Active Substance: ACETAMINOPHEN
     Route: 065
  426. ACETAMINOPHEN [Suspect]
     Active Substance: ACETAMINOPHEN
     Route: 065
  427. ACETAMINOPHEN [Suspect]
     Active Substance: ACETAMINOPHEN
     Route: 065
  428. ACETAMINOPHEN\CODEINE PHOSPHATE [Suspect]
     Active Substance: ACETAMINOPHEN\CODEINE PHOSPHATE
     Indication: Product used for unknown indication
     Route: 065
  429. ALENDRONATE SODIUM [Suspect]
     Active Substance: ALENDRONATE SODIUM
     Indication: Rheumatoid arthritis
     Route: 065
  430. ALENDRONATE SODIUM [Suspect]
     Active Substance: ALENDRONATE SODIUM
     Indication: Product used for unknown indication
     Route: 005
  431. ALENDRONATE SODIUM [Suspect]
     Active Substance: ALENDRONATE SODIUM
     Route: 016
  432. ALENDRONATE SODIUM [Suspect]
     Active Substance: ALENDRONATE SODIUM
     Route: 048
  433. ALENDRONATE SODIUM [Suspect]
     Active Substance: ALENDRONATE SODIUM
     Route: 065
  434. ALENDRONATE SODIUM [Suspect]
     Active Substance: ALENDRONATE SODIUM
     Route: 065
  435. ALENDRONATE SODIUM [Suspect]
     Active Substance: ALENDRONATE SODIUM
     Route: 005
  436. ALENDRONATE SODIUM [Suspect]
     Active Substance: ALENDRONATE SODIUM
     Route: 016
  437. ALENDRONATE SODIUM\CHOLECALCIFEROL [Suspect]
     Active Substance: ALENDRONATE SODIUM\CHOLECALCIFEROL
     Indication: Rheumatoid arthritis
     Route: 065
  438. ALENDRONIC ACID [Suspect]
     Active Substance: ALENDRONIC ACID
     Indication: Rheumatoid arthritis
     Route: 048
  439. ALENDRONIC ACID [Suspect]
     Active Substance: ALENDRONIC ACID
     Route: 065
  440. ALENDRONIC ACID [Suspect]
     Active Substance: ALENDRONIC ACID
     Route: 065
  441. ALENDRONIC ACID [Suspect]
     Active Substance: ALENDRONIC ACID
     Route: 048
  442. ALENDRONIC ACID [Suspect]
     Active Substance: ALENDRONIC ACID
     Route: 065
  443. ALENDRONIC ACID [Suspect]
     Active Substance: ALENDRONIC ACID
     Route: 065
  444. ALENDRONIC ACID [Suspect]
     Active Substance: ALENDRONIC ACID
     Route: 016
  445. ALENDRONIC ACID [Suspect]
     Active Substance: ALENDRONIC ACID
     Route: 048
  446. ALENDRONIC ACID [Suspect]
     Active Substance: ALENDRONIC ACID
     Route: 048
  447. ALENDRONIC ACID [Suspect]
     Active Substance: ALENDRONIC ACID
     Route: 065
  448. ALENDRONATE SODIUM\CHOLECALCIFEROL [Suspect]
     Active Substance: ALENDRONATE SODIUM\CHOLECALCIFEROL
     Indication: Rheumatoid arthritis
     Route: 065
  449. APREMILAST [Suspect]
     Active Substance: APREMILAST
     Indication: Product used for unknown indication
     Route: 065
  450. APREMILAST [Suspect]
     Active Substance: APREMILAST
     Indication: Rheumatoid arthritis
     Dosage: 6 MILLIGRAM, QD
     Route: 065
  451. APREMILAST [Suspect]
     Active Substance: APREMILAST
     Dosage: 6 MILLIGRAM, QD
     Route: 065
  452. APREMILAST [Suspect]
     Active Substance: APREMILAST
     Route: 065
  453. APREMILAST [Suspect]
     Active Substance: APREMILAST
     Route: 065
  454. APREMILAST [Suspect]
     Active Substance: APREMILAST
     Route: 065
  455. CALCIUM CARBONATE [Suspect]
     Active Substance: CALCIUM CARBONATE
     Indication: Product used for unknown indication
     Route: 065
  456. CALCIUM CITRATE [Suspect]
     Active Substance: CALCIUM CITRATE
     Indication: Product used for unknown indication
     Route: 065
  457. CALCIUM GLUBIONATE [Suspect]
     Active Substance: CALCIUM GLUBIONATE
     Indication: Product used for unknown indication
     Route: 016
  458. CETIRIZINE [Suspect]
     Active Substance: CETIRIZINE HYDROCHLORIDE
     Indication: Rheumatoid arthritis
     Route: 065
  459. CETIRIZINE [Suspect]
     Active Substance: CETIRIZINE HYDROCHLORIDE
     Indication: Off label use
     Route: 048
  460. CETIRIZINE [Suspect]
     Active Substance: CETIRIZINE HYDROCHLORIDE
     Route: 065
  461. CETIRIZINE [Suspect]
     Active Substance: CETIRIZINE HYDROCHLORIDE
     Route: 048
  462. CETIRIZINE [Suspect]
     Active Substance: CETIRIZINE HYDROCHLORIDE
     Route: 048
  463. CETIRIZINE [Suspect]
     Active Substance: CETIRIZINE HYDROCHLORIDE
     Route: 048
  464. CETIRIZINE [Suspect]
     Active Substance: CETIRIZINE HYDROCHLORIDE
     Route: 065
  465. CETIRIZINE [Suspect]
     Active Substance: CETIRIZINE HYDROCHLORIDE
     Route: 065
  466. CETIRIZINE [Suspect]
     Active Substance: CETIRIZINE HYDROCHLORIDE
     Route: 048
  467. CETIRIZINE HYDROCHLORIDE [Suspect]
     Active Substance: CETIRIZINE HYDROCHLORIDE
     Indication: Rheumatoid arthritis
     Route: 065
  468. CETIRIZINE HYDROCHLORIDE [Suspect]
     Active Substance: CETIRIZINE HYDROCHLORIDE
     Route: 065
  469. CETIRIZINE HYDROCHLORIDE [Suspect]
     Active Substance: CETIRIZINE HYDROCHLORIDE
     Route: 065
  470. CETIRIZINE HYDROCHLORIDE [Suspect]
     Active Substance: CETIRIZINE HYDROCHLORIDE
     Route: 048
  471. CETIRIZINE HYDROCHLORIDE [Suspect]
     Active Substance: CETIRIZINE HYDROCHLORIDE
     Route: 065
  472. CETIRIZINE HYDROCHLORIDE [Suspect]
     Active Substance: CETIRIZINE HYDROCHLORIDE
     Route: 065
  473. CETIRIZINE HYDROCHLORIDE [Suspect]
     Active Substance: CETIRIZINE HYDROCHLORIDE
     Route: 048
  474. CETIRIZINE HYDROCHLORIDE [Suspect]
     Active Substance: CETIRIZINE HYDROCHLORIDE
     Route: 065
  475. CETIRIZINE HYDROCHLORIDE [Suspect]
     Active Substance: CETIRIZINE HYDROCHLORIDE
     Route: 048
  476. CETIRIZINE HYDROCHLORIDE [Suspect]
     Active Substance: CETIRIZINE HYDROCHLORIDE
     Route: 065
  477. CETIRIZINE HYDROCHLORIDE [Suspect]
     Active Substance: CETIRIZINE HYDROCHLORIDE
     Route: 065
  478. CETIRIZINE HYDROCHLORIDE [Suspect]
     Active Substance: CETIRIZINE HYDROCHLORIDE
     Route: 016
  479. CETIRIZINE HYDROCHLORIDE [Suspect]
     Active Substance: CETIRIZINE HYDROCHLORIDE
     Route: 065
  480. CETIRIZINE HYDROCHLORIDE [Suspect]
     Active Substance: CETIRIZINE HYDROCHLORIDE
     Route: 065
  481. CETIRIZINE HYDROCHLORIDE [Suspect]
     Active Substance: CETIRIZINE HYDROCHLORIDE
     Route: 065
  482. CETIRIZINE HYDROCHLORIDE [Suspect]
     Active Substance: CETIRIZINE HYDROCHLORIDE
     Route: 065
  483. CETIRIZINE HYDROCHLORIDE [Suspect]
     Active Substance: CETIRIZINE HYDROCHLORIDE
     Route: 065
  484. CETIRIZINE HYDROCHLORIDE [Suspect]
     Active Substance: CETIRIZINE HYDROCHLORIDE
     Route: 065
  485. CETIRIZINE HYDROCHLORIDE [Suspect]
     Active Substance: CETIRIZINE HYDROCHLORIDE
     Route: 065
  486. CETIRIZINE HYDROCHLORIDE [Suspect]
     Active Substance: CETIRIZINE HYDROCHLORIDE
     Route: 048
  487. CETIRIZINE HYDROCHLORIDE [Suspect]
     Active Substance: CETIRIZINE HYDROCHLORIDE
     Route: 065
  488. CETIRIZINE HYDROCHLORIDE [Suspect]
     Active Substance: CETIRIZINE HYDROCHLORIDE
     Route: 065
  489. CETIRIZINE HYDROCHLORIDE [Suspect]
     Active Substance: CETIRIZINE HYDROCHLORIDE
     Route: 065
  490. CETIRIZINE HYDROCHLORIDE [Suspect]
     Active Substance: CETIRIZINE HYDROCHLORIDE
     Route: 065
  491. CETIRIZINE HYDROCHLORIDE [Suspect]
     Active Substance: CETIRIZINE HYDROCHLORIDE
     Route: 065
  492. CETIRIZINE HYDROCHLORIDE [Suspect]
     Active Substance: CETIRIZINE HYDROCHLORIDE
     Route: 065
  493. CETIRIZINE HYDROCHLORIDE [Suspect]
     Active Substance: CETIRIZINE HYDROCHLORIDE
     Route: 065
  494. CETIRIZINE HYDROCHLORIDE [Suspect]
     Active Substance: CETIRIZINE HYDROCHLORIDE
     Route: 065
  495. CETIRIZINE HYDROCHLORIDE [Suspect]
     Active Substance: CETIRIZINE HYDROCHLORIDE
     Route: 065
  496. CETIRIZINE HYDROCHLORIDE [Suspect]
     Active Substance: CETIRIZINE HYDROCHLORIDE
     Route: 065
  497. CETIRIZINE HYDROCHLORIDE [Suspect]
     Active Substance: CETIRIZINE HYDROCHLORIDE
     Route: 065
  498. CETIRIZINE HYDROCHLORIDE [Suspect]
     Active Substance: CETIRIZINE HYDROCHLORIDE
     Route: 065
  499. CETIRIZINE HYDROCHLORIDE [Suspect]
     Active Substance: CETIRIZINE HYDROCHLORIDE
     Route: 065
  500. CETIRIZINE HYDROCHLORIDE [Suspect]
     Active Substance: CETIRIZINE HYDROCHLORIDE
     Route: 016
  501. CETIRIZINE HYDROCHLORIDE [Suspect]
     Active Substance: CETIRIZINE HYDROCHLORIDE
     Route: 065
  502. CETIRIZINE HYDROCHLORIDE [Suspect]
     Active Substance: CETIRIZINE HYDROCHLORIDE
     Route: 065
  503. CETIRIZINE HYDROCHLORIDE [Suspect]
     Active Substance: CETIRIZINE HYDROCHLORIDE
     Route: 048
  504. CETIRIZINE HYDROCHLORIDE [Suspect]
     Active Substance: CETIRIZINE HYDROCHLORIDE
     Route: 048
  505. CETIRIZINE HYDROCHLORIDE [Suspect]
     Active Substance: CETIRIZINE HYDROCHLORIDE
     Route: 048
  506. CETIRIZINE HYDROCHLORIDE [Suspect]
     Active Substance: CETIRIZINE HYDROCHLORIDE
     Route: 065
  507. CETIRIZINE HYDROCHLORIDE [Suspect]
     Active Substance: CETIRIZINE HYDROCHLORIDE
     Route: 065
  508. CETIRIZINE HYDROCHLORIDE [Suspect]
     Active Substance: CETIRIZINE HYDROCHLORIDE
     Route: 065
  509. CETIRIZINE HYDROCHLORIDE [Suspect]
     Active Substance: CETIRIZINE HYDROCHLORIDE
     Route: 065
  510. CETIRIZINE HYDROCHLORIDE [Suspect]
     Active Substance: CETIRIZINE HYDROCHLORIDE
     Route: 048
  511. CIMZIA [Suspect]
     Active Substance: CERTOLIZUMAB PEGOL
     Indication: Rheumatoid arthritis
     Route: 058
  512. CIMZIA [Suspect]
     Active Substance: CERTOLIZUMAB PEGOL
     Indication: Psoriasis
     Route: 058
  513. CIMZIA [Suspect]
     Active Substance: CERTOLIZUMAB PEGOL
     Route: 058
  514. CIMZIA [Suspect]
     Active Substance: CERTOLIZUMAB PEGOL
     Route: 005
  515. CIMZIA [Suspect]
     Active Substance: CERTOLIZUMAB PEGOL
     Route: 065
  516. CIMZIA [Suspect]
     Active Substance: CERTOLIZUMAB PEGOL
     Route: 065
  517. CIMZIA [Suspect]
     Active Substance: CERTOLIZUMAB PEGOL
     Route: 065
  518. CIMZIA [Suspect]
     Active Substance: CERTOLIZUMAB PEGOL
     Route: 058
  519. CIMZIA [Suspect]
     Active Substance: CERTOLIZUMAB PEGOL
     Route: 058
  520. CIMZIA [Suspect]
     Active Substance: CERTOLIZUMAB PEGOL
     Route: 065
  521. CIMZIA [Suspect]
     Active Substance: CERTOLIZUMAB PEGOL
     Route: 058
  522. CORTISONE (HYDROCORTISONE) [Suspect]
     Active Substance: HYDROCORTISONE
     Indication: Rheumatoid arthritis
     Route: 065
  523. CORTISONE (HYDROCORTISONE) [Suspect]
     Active Substance: HYDROCORTISONE
     Route: 058
  524. CORTISONE (HYDROCORTISONE) [Suspect]
     Active Substance: HYDROCORTISONE
     Route: 065
  525. DESOXIMETASONE [Suspect]
     Active Substance: DESOXIMETASONE
     Indication: Rheumatoid arthritis
     Route: 065
  526. DESOXIMETASONE [Suspect]
     Active Substance: DESOXIMETASONE
     Route: 048
  527. DESOXIMETASONE [Suspect]
     Active Substance: DESOXIMETASONE
     Route: 058
  528. DESOXIMETASONE [Suspect]
     Active Substance: DESOXIMETASONE
     Route: 065
  529. DESOXIMETASONE [Suspect]
     Active Substance: DESOXIMETASONE
     Route: 048
  530. DESOXIMETASONE [Suspect]
     Active Substance: DESOXIMETASONE
     Route: 048
  531. DESOXIMETASONE [Suspect]
     Active Substance: DESOXIMETASONE
     Route: 048
  532. DESOXIMETASONE [Suspect]
     Active Substance: DESOXIMETASONE
     Route: 058
  533. DESOXIMETASONE [Suspect]
     Active Substance: DESOXIMETASONE
     Route: 048
  534. DESOXIMETASONE [Suspect]
     Active Substance: DESOXIMETASONE
     Route: 048
  535. DESOXIMETASONE [Suspect]
     Active Substance: DESOXIMETASONE
     Route: 003
  536. DESOXIMETASONE [Suspect]
     Active Substance: DESOXIMETASONE
     Route: 065
  537. DESOXIMETASONE [Suspect]
     Active Substance: DESOXIMETASONE
     Route: 048
  538. DESOXIMETASONE [Suspect]
     Active Substance: DESOXIMETASONE
     Route: 058
  539. DESOXIMETASONE [Suspect]
     Active Substance: DESOXIMETASONE
     Route: 065
  540. DESOXIMETASONE [Suspect]
     Active Substance: DESOXIMETASONE
     Route: 048
  541. DESOXIMETASONE [Suspect]
     Active Substance: DESOXIMETASONE
     Route: 065
  542. DESOXIMETASONE [Suspect]
     Active Substance: DESOXIMETASONE
     Route: 065
  543. DESOXIMETASONE [Suspect]
     Active Substance: DESOXIMETASONE
     Route: 048
  544. DESOXIMETASONE [Suspect]
     Active Substance: DESOXIMETASONE
     Route: 048
  545. DESOXIMETASONE [Suspect]
     Active Substance: DESOXIMETASONE
     Route: 048
  546. DESOXIMETASONE [Suspect]
     Active Substance: DESOXIMETASONE
     Route: 048
  547. DESOXIMETASONE [Suspect]
     Active Substance: DESOXIMETASONE
     Route: 048
  548. DESOXIMETASONE [Suspect]
     Active Substance: DESOXIMETASONE
     Route: 058
  549. DESOXIMETASONE [Suspect]
     Active Substance: DESOXIMETASONE
     Route: 048
  550. DESOXIMETASONE [Suspect]
     Active Substance: DESOXIMETASONE
     Route: 048
  551. DICLOFENAC [Suspect]
     Active Substance: DICLOFENAC
     Indication: Product used for unknown indication
     Route: 065
  552. DICLOFENAC POTASSIUM [Suspect]
     Active Substance: DICLOFENAC POTASSIUM
     Indication: Product used for unknown indication
     Route: 065
  553. FLUMETHASONE PIVALATE [Suspect]
     Active Substance: FLUMETHASONE PIVALATE
     Indication: Product used for unknown indication
     Route: 065
  554. FLUMETHASONE PIVALATE [Suspect]
     Active Substance: FLUMETHASONE PIVALATE
     Route: 003
  555. FLUMETHASONE PIVALATE [Suspect]
     Active Substance: FLUMETHASONE PIVALATE
     Route: 058
  556. FLUMETHASONE PIVALATE [Suspect]
     Active Substance: FLUMETHASONE PIVALATE
     Route: 048
  557. FLUMETHASONE PIVALATE [Suspect]
     Active Substance: FLUMETHASONE PIVALATE
     Route: 048
  558. FLUMETHASONE PIVALATE [Suspect]
     Active Substance: FLUMETHASONE PIVALATE
     Dosage: 50 MILLIGRAM, QD
     Route: 048
  559. FLUMETHASONE PIVALATE [Suspect]
     Active Substance: FLUMETHASONE PIVALATE
     Dosage: 10 MILLIGRAM, QD
     Route: 065
  560. FLUMETHASONE PIVALATE [Suspect]
     Active Substance: FLUMETHASONE PIVALATE
     Dosage: 50 MILLIGRAM, QD
     Route: 065
  561. FLUMETHASONE PIVALATE [Suspect]
     Active Substance: FLUMETHASONE PIVALATE
     Route: 065
  562. FLUMETHASONE PIVALATE [Suspect]
     Active Substance: FLUMETHASONE PIVALATE
     Dosage: 20 MILLIGRAM, QD
     Route: 048
  563. FLUMETHASONE PIVALATE [Suspect]
     Active Substance: FLUMETHASONE PIVALATE
     Route: 048
  564. FLUMETHASONE PIVALATE [Suspect]
     Active Substance: FLUMETHASONE PIVALATE
     Route: 003
  565. FLUMETHASONE PIVALATE [Suspect]
     Active Substance: FLUMETHASONE PIVALATE
     Route: 065
  566. GOLD SODIUM THIOMALATE [Suspect]
     Active Substance: GOLD SODIUM THIOMALATE
     Indication: Product used for unknown indication
     Route: 065
  567. GOLD SODIUM THIOMALATE [Suspect]
     Active Substance: GOLD SODIUM THIOMALATE
     Route: 048
  568. GOLD SODIUM THIOMALATE [Suspect]
     Active Substance: GOLD SODIUM THIOMALATE
     Route: 030
  569. HYDROCORTISONE [Suspect]
     Active Substance: HYDROCORTISONE
     Indication: Rheumatoid arthritis
     Route: 058
  570. HYDROCORTISONE [Suspect]
     Active Substance: HYDROCORTISONE
     Route: 065
  571. HYDROCORTISONE [Suspect]
     Active Substance: HYDROCORTISONE
     Route: 065
  572. HYDROCORTISONE [Suspect]
     Active Substance: HYDROCORTISONE
     Route: 065
  573. HYDROCORTISONE\NEOMYCIN SULFATE [Suspect]
     Active Substance: HYDROCORTISONE\NEOMYCIN SULFATE
     Indication: Rheumatoid arthritis
     Route: 065
  574. HYDROXYCHLOROQUINE SULFATE [Suspect]
     Active Substance: HYDROXYCHLOROQUINE SULFATE
     Indication: Rheumatoid arthritis
     Route: 065
  575. HYDROXYCHLOROQUINE SULFATE [Suspect]
     Active Substance: HYDROXYCHLOROQUINE SULFATE
     Route: 005
  576. HYDROXYCHLOROQUINE SULFATE [Suspect]
     Active Substance: HYDROXYCHLOROQUINE SULFATE
     Dosage: 40 MILLIGRAM, QD
     Route: 065
  577. HYDROXYCHLOROQUINE SULFATE [Suspect]
     Active Substance: HYDROXYCHLOROQUINE SULFATE
     Route: 065
  578. HYDROXYCHLOROQUINE SULFATE [Suspect]
     Active Substance: HYDROXYCHLOROQUINE SULFATE
     Route: 065
  579. HYDROXYCHLOROQUINE SULFATE [Suspect]
     Active Substance: HYDROXYCHLOROQUINE SULFATE
     Route: 048
  580. HYDROXYCHLOROQUINE SULFATE [Suspect]
     Active Substance: HYDROXYCHLOROQUINE SULFATE
     Route: 048
  581. HYDROXYCHLOROQUINE SULFATE [Suspect]
     Active Substance: HYDROXYCHLOROQUINE SULFATE
     Dosage: 400 MILLIGRAM, QD
     Route: 048
  582. HYDROXYCHLOROQUINE SULFATE [Suspect]
     Active Substance: HYDROXYCHLOROQUINE SULFATE
     Route: 065
  583. HYDROXYCHLOROQUINE SULFATE [Suspect]
     Active Substance: HYDROXYCHLOROQUINE SULFATE
     Dosage: 400 MILLIGRAM, QD
     Route: 048
  584. HYDROXYCHLOROQUINE SULFATE [Suspect]
     Active Substance: HYDROXYCHLOROQUINE SULFATE
     Route: 050
  585. HYDROXYCHLOROQUINE SULFATE [Suspect]
     Active Substance: HYDROXYCHLOROQUINE SULFATE
     Dosage: UNK, QD
     Route: 065
  586. HYDROXYCHLOROQUINE SULFATE [Suspect]
     Active Substance: HYDROXYCHLOROQUINE SULFATE
     Dosage: UNK, QD
     Route: 065
  587. HYDROXYCHLOROQUINE SULFATE [Suspect]
     Active Substance: HYDROXYCHLOROQUINE SULFATE
     Route: 065
  588. ISOPROPYL ALCOHOL [Suspect]
     Active Substance: ISOPROPYL ALCOHOL
     Indication: Product used for unknown indication
     Route: 065
  589. ISOPROPYL ALCOHOL [Suspect]
     Active Substance: ISOPROPYL ALCOHOL
     Route: 065
  590. ISOPROPYL ALCOHOL [Suspect]
     Active Substance: ISOPROPYL ALCOHOL
     Route: 065
  591. MEGLUMINE [Suspect]
     Active Substance: MEGLUMINE
     Indication: Product used for unknown indication
     Route: 042
  592. MEGLUMINE [Suspect]
     Active Substance: MEGLUMINE
     Route: 065
  593. OTEZLA [Suspect]
     Active Substance: APREMILAST
     Indication: Product used for unknown indication
     Route: 065
  594. OTEZLA [Suspect]
     Active Substance: APREMILAST
     Indication: Rheumatoid arthritis
     Dosage: 6 MG, QD
     Route: 065
  595. PERIOGARD [Suspect]
     Active Substance: CHLORHEXIDINE GLUCONATE
     Indication: Product used for unknown indication
     Route: 002
  596. PERIOGARD [Suspect]
     Active Substance: CHLORHEXIDINE GLUCONATE
     Route: 050
  597. HYDROXYCHLOROQUINE DIPHOSPHATE [Suspect]
     Active Substance: HYDROXYCHLOROQUINE DIPHOSPHATE
     Indication: Rheumatoid arthritis
     Route: 065
  598. RAMIPRIL [Suspect]
     Active Substance: RAMIPRIL
     Indication: Rheumatoid arthritis
     Route: 016
  599. RAMIPRIL [Suspect]
     Active Substance: RAMIPRIL
     Route: 065
  600. RAMIPRIL [Suspect]
     Active Substance: RAMIPRIL
     Route: 042
  601. RANITIDINE HYDROCHLORIDE [Suspect]
     Active Substance: RANITIDINE HYDROCHLORIDE
     Indication: Rheumatoid arthritis
     Route: 065
  602. CETIRIZINE HYDROCHLORIDE\PSEUDOEPHEDRINE HYDROCHLORIDE [Suspect]
     Active Substance: CETIRIZINE HYDROCHLORIDE\PSEUDOEPHEDRINE HYDROCHLORIDE
     Indication: Rheumatoid arthritis
     Route: 065
  603. CETIRIZINE HYDROCHLORIDE\PSEUDOEPHEDRINE HYDROCHLORIDE [Suspect]
     Active Substance: CETIRIZINE HYDROCHLORIDE\PSEUDOEPHEDRINE HYDROCHLORIDE
     Route: 042
  604. CETIRIZINE HYDROCHLORIDE\PSEUDOEPHEDRINE HYDROCHLORIDE [Suspect]
     Active Substance: CETIRIZINE HYDROCHLORIDE\PSEUDOEPHEDRINE HYDROCHLORIDE
     Route: 042
  605. REMICADE [Suspect]
     Active Substance: INFLIXIMAB
     Indication: Rheumatoid arthritis
     Route: 058
  606. REMICADE [Suspect]
     Active Substance: INFLIXIMAB
     Dosage: 500 MILLIGRAM, Q24H
     Route: 058
  607. REMICADE [Suspect]
     Active Substance: INFLIXIMAB
     Route: 065
  608. REMICADE [Suspect]
     Active Substance: INFLIXIMAB
     Route: 042
  609. REMICADE [Suspect]
     Active Substance: INFLIXIMAB
     Dosage: 500 MILLIGRAM, QD
     Route: 042
  610. REMICADE [Suspect]
     Active Substance: INFLIXIMAB
     Route: 042
  611. REMICADE [Suspect]
     Active Substance: INFLIXIMAB
     Route: 042
  612. REMICADE [Suspect]
     Active Substance: INFLIXIMAB
     Route: 058
  613. REMICADE [Suspect]
     Active Substance: INFLIXIMAB
     Route: 042
  614. SIMPONI [Suspect]
     Active Substance: GOLIMUMAB
     Indication: Rheumatoid arthritis
     Route: 058
  615. SIMPONI [Suspect]
     Active Substance: GOLIMUMAB
     Route: 058
  616. SIMPONI [Suspect]
     Active Substance: GOLIMUMAB
     Route: 065
  617. SIMPONI [Suspect]
     Active Substance: GOLIMUMAB
     Route: 058
  618. SIMPONI [Suspect]
     Active Substance: GOLIMUMAB
     Route: 065
  619. SULFAMETHOXAZOLE\TRIMETHOPRIM [Suspect]
     Active Substance: SULFAMETHOXAZOLE\TRIMETHOPRIM
     Indication: Product used for unknown indication
     Route: 065
  620. SULFAMETHOXAZOLE\TRIMETHOPRIM [Suspect]
     Active Substance: SULFAMETHOXAZOLE\TRIMETHOPRIM
     Indication: Rheumatoid arthritis
     Route: 048
  621. SULFAMETHOXAZOLE\TRIMETHOPRIM [Suspect]
     Active Substance: SULFAMETHOXAZOLE\TRIMETHOPRIM
     Dosage: 10 MG, QD
     Route: 048
  622. SULFASALAZINE [Suspect]
     Active Substance: SULFASALAZINE
     Indication: Rheumatoid arthritis
     Route: 058
  623. SULFASALAZINE [Suspect]
     Active Substance: SULFASALAZINE
     Route: 058
  624. SULFASALAZINE [Suspect]
     Active Substance: SULFASALAZINE
     Dosage: 2 GRAM, QD
     Route: 065
  625. SULFASALAZINE [Suspect]
     Active Substance: SULFASALAZINE
     Route: 048
  626. SULFASALAZINE [Suspect]
     Active Substance: SULFASALAZINE
     Dosage: 2 GRAM, QD
     Route: 048
  627. SULFASALAZINE [Suspect]
     Active Substance: SULFASALAZINE
     Route: 048
  628. SULFASALAZINE [Suspect]
     Active Substance: SULFASALAZINE
     Route: 048
  629. SULFASALAZINE [Suspect]
     Active Substance: SULFASALAZINE
     Route: 048
  630. SULFASALAZINE [Suspect]
     Active Substance: SULFASALAZINE
     Dosage: UNK UNK, QD
     Route: 048
  631. SULFASALAZINE [Suspect]
     Active Substance: SULFASALAZINE
     Route: 016
  632. SULFASALAZINE [Suspect]
     Active Substance: SULFASALAZINE
     Dosage: 2 GRAM, QD
     Route: 048
  633. SULFASALAZINE [Suspect]
     Active Substance: SULFASALAZINE
     Dosage: 1 GRAM, QD
     Route: 048
  634. SULFASALAZINE [Suspect]
     Active Substance: SULFASALAZINE
     Dosage: 1 GRAM, QD
     Route: 058
  635. SULFASALAZINE [Suspect]
     Active Substance: SULFASALAZINE
     Route: 058
  636. SULFASALAZINE [Suspect]
     Active Substance: SULFASALAZINE
     Route: 058
  637. SULFASALAZINE [Suspect]
     Active Substance: SULFASALAZINE
     Route: 058
  638. SULFASALAZINE [Suspect]
     Active Substance: SULFASALAZINE
     Dosage: 300 MILLIGRAM, QD
     Route: 065
  639. SULFASALAZINE [Suspect]
     Active Substance: SULFASALAZINE
     Route: 058
  640. SULFASALAZINE [Suspect]
     Active Substance: SULFASALAZINE
     Route: 065
  641. SULFASALAZINE [Suspect]
     Active Substance: SULFASALAZINE
     Route: 058
  642. SULFASALAZINE [Suspect]
     Active Substance: SULFASALAZINE
     Route: 048
  643. SULFASALAZINE [Suspect]
     Active Substance: SULFASALAZINE
     Dosage: UNK, QD
     Route: 048
  644. SULFASALAZINE [Suspect]
     Active Substance: SULFASALAZINE
     Route: 065
  645. SULFASALAZINE [Suspect]
     Active Substance: SULFASALAZINE
     Dosage: 1 GRAM, QD
     Route: 065
  646. SULFASALAZINE [Suspect]
     Active Substance: SULFASALAZINE
     Dosage: 300 MILLIGRAM, QD
     Route: 065
  647. SULFASALAZINE [Suspect]
     Active Substance: SULFASALAZINE
     Route: 058
  648. SULFASALAZINE [Suspect]
     Active Substance: SULFASALAZINE
     Route: 048
  649. SULFASALAZINE [Suspect]
     Active Substance: SULFASALAZINE
     Dosage: 2 GRAM, QD
     Route: 065
  650. SULFASALAZINE [Suspect]
     Active Substance: SULFASALAZINE
     Route: 048
  651. SULFASALAZINE [Suspect]
     Active Substance: SULFASALAZINE
     Dosage: 2 DOSAGE FORM, QD
     Route: 048
  652. SULFASALAZINE [Suspect]
     Active Substance: SULFASALAZINE
     Route: 016
  653. SULFASALAZINE [Suspect]
     Active Substance: SULFASALAZINE
     Route: 058
  654. SULFASALAZINE [Suspect]
     Active Substance: SULFASALAZINE
     Dosage: UNK, QD
     Route: 048
  655. SULFASALAZINE [Suspect]
     Active Substance: SULFASALAZINE
     Route: 058
  656. SULFASALAZINE [Suspect]
     Active Substance: SULFASALAZINE
     Dosage: 1 GRAM, QD
     Route: 058
  657. SULFASALAZINE [Suspect]
     Active Substance: SULFASALAZINE
     Route: 048
  658. SULFASALAZINE [Suspect]
     Active Substance: SULFASALAZINE
     Route: 058
  659. SULFASALAZINE [Suspect]
     Active Substance: SULFASALAZINE
     Route: 058
  660. SULFASALAZINE [Suspect]
     Active Substance: SULFASALAZINE
     Dosage: 2 GRAM, QD
     Route: 048
  661. SULFASALAZINE [Suspect]
     Active Substance: SULFASALAZINE
     Route: 065
  662. SULFASALAZINE [Suspect]
     Active Substance: SULFASALAZINE
     Dosage: 300 MILLIGRAM, QD
     Route: 065
  663. SULFASALAZINE [Suspect]
     Active Substance: SULFASALAZINE
     Route: 065
  664. SULFASALAZINE [Suspect]
     Active Substance: SULFASALAZINE
     Route: 065
  665. SULFASALAZINE [Suspect]
     Active Substance: SULFASALAZINE
     Dosage: 19 MILLIGRAM, QD
     Route: 065
  666. SULFASALAZINE [Suspect]
     Active Substance: SULFASALAZINE
     Route: 048
  667. SULFASALAZINE [Suspect]
     Active Substance: SULFASALAZINE
     Dosage: 300 MILLIGRAM, QD
     Route: 058
  668. SULFASALAZINE [Suspect]
     Active Substance: SULFASALAZINE
     Route: 065
  669. SULFASALAZINE [Suspect]
     Active Substance: SULFASALAZINE
     Route: 065
  670. SULFASALAZINE [Suspect]
     Active Substance: SULFASALAZINE
     Route: 065
  671. SULFASALAZINE [Suspect]
     Active Substance: SULFASALAZINE
     Dosage: 2000 MILLIGRAM, QD
     Route: 050
  672. SULFATHIAZOLE [Suspect]
     Active Substance: SULFATHIAZOLE
     Indication: Product used for unknown indication
     Route: 065
  673. THIAMINE HYDROCHLORIDE [Suspect]
     Active Substance: THIAMINE HYDROCHLORIDE
     Indication: Product used for unknown indication
     Route: 065
  674. TOCILIZUMAB [Suspect]
     Active Substance: TOCILIZUMAB
     Indication: Rheumatoid arthritis
     Route: 042
  675. TOCILIZUMAB [Suspect]
     Active Substance: TOCILIZUMAB
     Route: 058
  676. TOCILIZUMAB [Suspect]
     Active Substance: TOCILIZUMAB
     Route: 042
  677. TOCILIZUMAB [Suspect]
     Active Substance: TOCILIZUMAB
     Route: 065
  678. TOCILIZUMAB [Suspect]
     Active Substance: TOCILIZUMAB
     Route: 016
  679. TOCILIZUMAB [Suspect]
     Active Substance: TOCILIZUMAB
     Route: 042
  680. TOCILIZUMAB [Suspect]
     Active Substance: TOCILIZUMAB
     Route: 065
  681. TOCILIZUMAB [Suspect]
     Active Substance: TOCILIZUMAB
     Route: 058
  682. TOFACITINIB [Suspect]
     Active Substance: TOFACITINIB
     Indication: Rheumatoid arthritis
     Route: 065
  683. TOFACITINIB [Suspect]
     Active Substance: TOFACITINIB
     Route: 065
  684. TOFACITINIB [Suspect]
     Active Substance: TOFACITINIB
     Route: 065
  685. TOFACITINIB [Suspect]
     Active Substance: TOFACITINIB
     Route: 065
  686. TOFACITINIB [Suspect]
     Active Substance: TOFACITINIB
     Dosage: 10 MILLIGRAM, QD
     Route: 065
  687. TOFACITINIB [Suspect]
     Active Substance: TOFACITINIB
     Dosage: 10 MILLIGRAM, QD
     Route: 048
  688. TOFACITINIB [Suspect]
     Active Substance: TOFACITINIB
     Route: 065
  689. TOFACITINIB CITRATE [Suspect]
     Active Substance: TOFACITINIB CITRATE
     Indication: Rheumatoid arthritis
     Dosage: 10 MILLIGRAM, QD
     Route: 065
  690. TOFACITINIB CITRATE [Suspect]
     Active Substance: TOFACITINIB CITRATE
     Route: 065
  691. TOFACITINIB CITRATE [Suspect]
     Active Substance: TOFACITINIB CITRATE
     Dosage: 10 MILLIGRAM, QD
     Route: 048
  692. TOPIRAMATE [Suspect]
     Active Substance: TOPIRAMATE
     Indication: Migraine
     Route: 065
  693. TOPIRAMATE [Suspect]
     Active Substance: TOPIRAMATE
     Indication: Rheumatoid arthritis
     Dosage: 25 MILLIGRAM, QD
     Route: 065
  694. TOPIRAMATE [Suspect]
     Active Substance: TOPIRAMATE
     Dosage: 25 MILLIGRAM, QD
     Route: 065
  695. TOPIRAMATE [Suspect]
     Active Substance: TOPIRAMATE
     Route: 065
  696. TOPIRAMATE [Suspect]
     Active Substance: TOPIRAMATE
     Dosage: 3 MILLIGRAM, QD
     Route: 065
  697. TOPIRAMATE [Suspect]
     Active Substance: TOPIRAMATE
     Dosage: 25 MILLIGRAM, QD
     Route: 065
  698. TRAMADOL HYDROCHLORIDE [Suspect]
     Active Substance: TRAMADOL HYDROCHLORIDE
     Indication: Product used for unknown indication
     Route: 065
  699. TRAMADOL HYDROCHLORIDE [Suspect]
     Active Substance: TRAMADOL HYDROCHLORIDE
     Dosage: 20 MILLIGRAM, QD
     Route: 065
  700. TRAMADOL HYDROCHLORIDE [Suspect]
     Active Substance: TRAMADOL HYDROCHLORIDE
     Dosage: 20 MILLIGRAM, QD
     Route: 065
  701. TRAMADOL HYDROCHLORIDE [Suspect]
     Active Substance: TRAMADOL HYDROCHLORIDE
     Route: 065
  702. TRAMADOL HYDROCHLORIDE [Suspect]
     Active Substance: TRAMADOL HYDROCHLORIDE
     Route: 065
  703. TRIAMCINOLONE ACETONIDE [Suspect]
     Active Substance: TRIAMCINOLONE ACETONIDE
     Indication: Rheumatoid arthritis
     Route: 014
  704. TRIAMCINOLONE ACETONIDE [Suspect]
     Active Substance: TRIAMCINOLONE ACETONIDE
     Route: 014
  705. USTEKINUMAB [Suspect]
     Active Substance: USTEKINUMAB
     Indication: Rheumatoid arthritis
     Route: 058
  706. USTEKINUMAB [Suspect]
     Active Substance: USTEKINUMAB
     Route: 065
  707. USTEKINUMAB [Suspect]
     Active Substance: USTEKINUMAB
     Route: 058
  708. RETINOL [Suspect]
     Active Substance: RETINOL
     Indication: Product used for unknown indication
     Route: 065
  709. VITAMIN C [Suspect]
     Active Substance: ASCORBIC ACID
     Indication: Product used for unknown indication
     Route: 065
  710. VITAMIN C [Suspect]
     Active Substance: ASCORBIC ACID
     Route: 065
  711. VITAMIN D3 [Suspect]
     Active Substance: CHOLECALCIFEROL
     Indication: Product used for unknown indication
     Route: 065
  712. VITAMIN D3 [Suspect]
     Active Substance: CHOLECALCIFEROL
     Route: 065
  713. XELJANZ [Suspect]
     Active Substance: TOFACITINIB CITRATE
     Indication: Rheumatoid arthritis
     Dosage: 10 MILLIGRAM, QD
     Route: 048
  714. XELJANZ [Suspect]
     Active Substance: TOFACITINIB CITRATE
     Route: 065
  715. XELJANZ [Suspect]
     Active Substance: TOFACITINIB CITRATE
     Route: 065
  716. XELJANZ [Suspect]
     Active Substance: TOFACITINIB CITRATE
     Route: 048
  717. XELJANZ [Suspect]
     Active Substance: TOFACITINIB CITRATE
     Dosage: 10 MILLIGRAM, QD
     Route: 065
  718. XELJANZ [Suspect]
     Active Substance: TOFACITINIB CITRATE
     Route: 065
  719. XELJANZ [Suspect]
     Active Substance: TOFACITINIB CITRATE
     Route: 065
  720. XELJANZ [Suspect]
     Active Substance: TOFACITINIB CITRATE
     Route: 065
  721. XELJANZ [Suspect]
     Active Substance: TOFACITINIB CITRATE
     Route: 065
  722. XELJANZ [Suspect]
     Active Substance: TOFACITINIB CITRATE
     Dosage: 10 MILLIGRAM, QD
     Route: 065
  723. XELJANZ [Suspect]
     Active Substance: TOFACITINIB CITRATE
     Route: 048
  724. XELJANZ [Suspect]
     Active Substance: TOFACITINIB CITRATE
     Dosage: 20 MILLIGRAM, QD
     Route: 048
  725. ZINC [Suspect]
     Active Substance: ZINC
     Indication: Rheumatoid arthritis
     Route: 065
  726. AIMOVIG [Suspect]
     Active Substance: ERENUMAB-AOOE
     Indication: Product used for unknown indication
     Route: 065
  727. AIMOVIG [Suspect]
     Active Substance: ERENUMAB-AOOE
     Indication: Migraine
     Route: 065
  728. AIMOVIG [Suspect]
     Active Substance: ERENUMAB-AOOE
     Route: 065
  729. AIMOVIG [Suspect]
     Active Substance: ERENUMAB-AOOE
     Indication: Migraine
     Route: 065
  730. CANDESARTAN CILEXETIL [Suspect]
     Active Substance: CANDESARTAN CILEXETIL
     Indication: Migraine
     Route: 048
  731. COSENTYX [Suspect]
     Active Substance: SECUKINUMAB
     Indication: Rheumatoid arthritis
     Route: 065
  732. COSENTYX [Suspect]
     Active Substance: SECUKINUMAB
     Indication: Psoriatic arthropathy
  733. ERELZI [Suspect]
     Active Substance: ETANERCEPT-SZZS
     Indication: Rheumatoid arthritis
     Route: 065
  734. ERELZI [Suspect]
     Active Substance: ETANERCEPT-SZZS
     Indication: Product used for unknown indication
     Route: 058
  735. ERELZI [Suspect]
     Active Substance: ETANERCEPT-SZZS
     Route: 065
  736. ERELZI [Suspect]
     Active Substance: ETANERCEPT-SZZS
     Route: 065
  737. ERELZI [Suspect]
     Active Substance: ETANERCEPT-SZZS
     Route: 058
  738. LEFLUNOMIDE [Suspect]
     Active Substance: LEFLUNOMIDE
     Indication: Rheumatoid arthritis
     Dosage: 10 MILLIGRAM, QD
     Route: 065
  739. LEFLUNOMIDE [Suspect]
     Active Substance: LEFLUNOMIDE
     Dosage: 20 MILLIGRAM, QD
     Route: 065
  740. LEFLUNOMIDE [Suspect]
     Active Substance: LEFLUNOMIDE
     Dosage: 10 MILLIGRAM, QD
     Route: 048
  741. LEFLUNOMIDE [Suspect]
     Active Substance: LEFLUNOMIDE
     Route: 048
  742. METHOTREXATE [Suspect]
     Active Substance: METHOTREXATE
     Indication: Rheumatoid arthritis
     Route: 013
  743. METHOTREXATE [Suspect]
     Active Substance: METHOTREXATE
     Route: 065
  744. METHOTREXATE [Suspect]
     Active Substance: METHOTREXATE
     Route: 048
  745. METHOTREXATE [Suspect]
     Active Substance: METHOTREXATE
     Route: 065
  746. METHOTREXATE [Suspect]
     Active Substance: METHOTREXATE
     Dosage: 50 MILLIGRAM, QD
     Route: 048
  747. METHOTREXATE [Suspect]
     Active Substance: METHOTREXATE
     Route: 048
  748. METHOTREXATE [Suspect]
     Active Substance: METHOTREXATE
     Dosage: 50 MILLIGRAM, QD
     Route: 048
  749. METHOTREXATE [Suspect]
     Active Substance: METHOTREXATE
     Route: 048
  750. METHOTREXATE [Suspect]
     Active Substance: METHOTREXATE
     Route: 048
  751. METHOTREXATE [Suspect]
     Active Substance: METHOTREXATE
     Route: 013
  752. METHOTREXATE [Suspect]
     Active Substance: METHOTREXATE
     Route: 013
  753. METHOTREXATE [Suspect]
     Active Substance: METHOTREXATE
     Dosage: 20 MILLIGRAM, QD
     Route: 048
  754. METHOTREXATE [Suspect]
     Active Substance: METHOTREXATE
     Route: 048
  755. METHOTREXATE [Suspect]
     Active Substance: METHOTREXATE
     Route: 058
  756. METHOTREXATE [Suspect]
     Active Substance: METHOTREXATE
     Route: 048
  757. METHOTREXATE [Suspect]
     Active Substance: METHOTREXATE
     Route: 048
  758. METHOTREXATE [Suspect]
     Active Substance: METHOTREXATE
     Route: 048
  759. METHOTREXATE [Suspect]
     Active Substance: METHOTREXATE
     Route: 016
  760. METHOTREXATE [Suspect]
     Active Substance: METHOTREXATE
     Route: 065
  761. METHOTREXATE [Suspect]
     Active Substance: METHOTREXATE
     Route: 013
  762. METHOTREXATE [Suspect]
     Active Substance: METHOTREXATE
     Route: 048
  763. METHOTREXATE [Suspect]
     Active Substance: METHOTREXATE
     Dosage: 25 MG, QD
     Route: 050
  764. METHOTREXATE [Suspect]
     Active Substance: METHOTREXATE
     Route: 050
  765. METHOTREXATE [Suspect]
     Active Substance: METHOTREXATE
     Dosage: 20 MG, QD
     Route: 050
  766. METHOTREXATE [Suspect]
     Active Substance: METHOTREXATE
     Dosage: 20 MG, QWEEK
     Route: 050
  767. METHOTREXATE [Suspect]
     Active Substance: METHOTREXATE
     Dosage: 15 MG, QWEEK
     Route: 050
  768. METHOTREXATE [Suspect]
     Active Substance: METHOTREXATE
     Indication: Rheumatoid arthritis
     Route: 013
  769. METHOTREXATE [Suspect]
     Active Substance: METHOTREXATE
     Route: 048
  770. METHOTREXATE [Suspect]
     Active Substance: METHOTREXATE
     Route: 048
  771. METHOTREXATE [Suspect]
     Active Substance: METHOTREXATE
     Route: 048
  772. METHOTREXATE [Suspect]
     Active Substance: METHOTREXATE
     Route: 048
  773. METHOTREXATE [Suspect]
     Active Substance: METHOTREXATE
     Route: 048
  774. METHOTREXATE [Suspect]
     Active Substance: METHOTREXATE
     Route: 048
  775. METHOTREXATE [Suspect]
     Active Substance: METHOTREXATE
     Dosage: 50 MILLIGRAM, QD
     Route: 048
  776. METHOTREXATE [Suspect]
     Active Substance: METHOTREXATE
     Dosage: 50 MILLIGRAM, QD
     Route: 048
  777. METHOTREXATE [Suspect]
     Active Substance: METHOTREXATE
     Route: 048
  778. METHOTREXATE [Suspect]
     Active Substance: METHOTREXATE
     Route: 048
  779. METHOTREXATE [Suspect]
     Active Substance: METHOTREXATE
     Route: 048
  780. METHOTREXATE [Suspect]
     Active Substance: METHOTREXATE
     Dosage: 20 MILLIGRAM, QD
     Route: 048
  781. METHOTREXATE [Suspect]
     Active Substance: METHOTREXATE
     Route: 016
  782. METHOTREXATE [Suspect]
     Active Substance: METHOTREXATE
     Route: 013
  783. METHOTREXATE [Suspect]
     Active Substance: METHOTREXATE
     Route: 058
  784. METHOTREXATE [Suspect]
     Active Substance: METHOTREXATE
     Dosage: 25 MILLIGRAM, QD
     Route: 048
  785. METHOTREXATE [Suspect]
     Active Substance: METHOTREXATE
     Route: 013
  786. METHOTREXATE [Suspect]
     Active Substance: METHOTREXATE
     Route: 013
  787. METHOTREXATE [Suspect]
     Active Substance: METHOTREXATE
     Route: 048
  788. METHOTREXATE [Suspect]
     Active Substance: METHOTREXATE
     Route: 065
  789. METHOTREXATE [Suspect]
     Active Substance: METHOTREXATE
     Route: 048
  790. OXYCODONE HYDROCHLORIDE [Suspect]
     Active Substance: OXYCODONE HYDROCHLORIDE
     Indication: Product used for unknown indication
     Route: 065
  791. PHENYLEPHRINE HYDROCHLORIDE [Suspect]
     Active Substance: PHENYLEPHRINE HYDROCHLORIDE
     Indication: Rheumatoid arthritis
     Route: 065
  792. RITUXIMAB [Suspect]
     Active Substance: RITUXIMAB
     Indication: Rheumatoid arthritis
     Dosage: 2000 MILLIGRAM, QD
     Route: 065
  793. RITUXIMAB [Suspect]
     Active Substance: RITUXIMAB
     Route: 040
  794. RITUXIMAB [Suspect]
     Active Substance: RITUXIMAB
     Dosage: 365 MILLIGRAM, QD
     Route: 065
  795. RITUXIMAB [Suspect]
     Active Substance: RITUXIMAB
     Dosage: 2000 MILLIGRAM, QD
     Route: 065
  796. RITUXIMAB [Suspect]
     Active Substance: RITUXIMAB
     Route: 040
  797. RITUXIMAB [Suspect]
     Active Substance: RITUXIMAB
     Route: 043
  798. RITUXIMAB [Suspect]
     Active Substance: RITUXIMAB
     Route: 043
  799. RITUXIMAB [Suspect]
     Active Substance: RITUXIMAB
     Dosage: 2000 MILLIGRAM, QD
     Route: 065
  800. RITUXIMAB [Suspect]
     Active Substance: RITUXIMAB
     Dosage: 2000 MILLIGRAM, QD
     Route: 065
  801. RITUXIMAB [Suspect]
     Active Substance: RITUXIMAB
     Route: 016
  802. RITUXIMAB [Suspect]
     Active Substance: RITUXIMAB
     Route: 016
  803. RITUXIMAB [Suspect]
     Active Substance: RITUXIMAB
     Route: 040
  804. RITUXIMAB [Suspect]
     Active Substance: RITUXIMAB
     Route: 058
  805. RITUXIMAB [Suspect]
     Active Substance: RITUXIMAB
     Route: 016
  806. RITUXIMAB [Suspect]
     Active Substance: RITUXIMAB
     Dosage: 2 GRAM, QD
     Route: 040
  807. RITUXIMAB [Suspect]
     Active Substance: RITUXIMAB
     Dosage: 2 GRAM, QD
     Route: 040
  808. RITUXIMAB [Suspect]
     Active Substance: RITUXIMAB
     Route: 065
  809. RITUXIMAB [Suspect]
     Active Substance: RITUXIMAB
     Route: 042
  810. RITUXIMAB [Suspect]
     Active Substance: RITUXIMAB
     Route: 042
  811. RITUXIMAB [Suspect]
     Active Substance: RITUXIMAB
     Route: 042
  812. RITUXIMAB [Suspect]
     Active Substance: RITUXIMAB
     Route: 065
  813. RITUXIMAB [Suspect]
     Active Substance: RITUXIMAB
     Route: 043
  814. RITUXIMAB [Suspect]
     Active Substance: RITUXIMAB
     Route: 065
  815. RITUXIMAB [Suspect]
     Active Substance: RITUXIMAB
     Route: 042
  816. RITUXIMAB [Suspect]
     Active Substance: RITUXIMAB
     Route: 058
  817. RITUXIMAB [Suspect]
     Active Substance: RITUXIMAB
     Dosage: 2000 MILLIGRAM, QD
     Route: 050
  818. RITUXIMAB [Suspect]
     Active Substance: RITUXIMAB
     Route: 058
  819. RITUXIMAB [Suspect]
     Active Substance: RITUXIMAB
     Route: 050
  820. RITUXIMAB [Suspect]
     Active Substance: RITUXIMAB
     Dosage: 2 GRAM, QD
     Route: 042
  821. RITUXIMAB [Suspect]
     Active Substance: RITUXIMAB
     Dosage: 2 GRAM, QD
     Route: 065
  822. RITUXIMAB [Suspect]
     Active Substance: RITUXIMAB
     Dosage: 1 GRAM, QD
     Route: 042
  823. RITUXIMAB [Suspect]
     Active Substance: RITUXIMAB
     Dosage: 2000 MILLIGRAM, QD
     Route: 050
  824. RITUXIMAB [Suspect]
     Active Substance: RITUXIMAB
     Route: 042
  825. RITUXIMAB [Suspect]
     Active Substance: RITUXIMAB
     Dosage: 2 GRAM, QD
     Route: 042
  826. RITUXIMAB [Suspect]
     Active Substance: RITUXIMAB
     Dosage: 2000 MILLIGRAM, QD
     Route: 042
  827. RITUXIMAB [Suspect]
     Active Substance: RITUXIMAB
     Dosage: 2000 MILLIGRAM, QD
     Route: 042
  828. RITUXIMAB [Suspect]
     Active Substance: RITUXIMAB
     Route: 050
  829. RITUXIMAB [Suspect]
     Active Substance: RITUXIMAB
     Route: 042
  830. RITUXIMAB [Suspect]
     Active Substance: RITUXIMAB
     Route: 042
  831. RITUXIMAB [Suspect]
     Active Substance: RITUXIMAB
     Dosage: 2 GRAM, QD
     Route: 065
  832. RITUXIMAB [Suspect]
     Active Substance: RITUXIMAB
     Route: 050
  833. RITUXIMAB [Suspect]
     Active Substance: RITUXIMAB
     Route: 050
  834. RITUXIMAB [Suspect]
     Active Substance: RITUXIMAB
     Route: 043
  835. RITUXIMAB [Suspect]
     Active Substance: RITUXIMAB
     Dosage: 2000 MILLIGRAM, QD
     Route: 050
  836. RITUXIMAB [Suspect]
     Active Substance: RITUXIMAB
     Route: 050
  837. RITUXIMAB [Suspect]
     Active Substance: RITUXIMAB
     Route: 058
  838. RITUXIMAB [Suspect]
     Active Substance: RITUXIMAB
     Dosage: 1000 MILLIGRAM, QD
     Route: 042
  839. RITUXIMAB [Suspect]
     Active Substance: RITUXIMAB
     Dosage: 2 GRAM, QD
     Route: 050
  840. RITUXIMAB [Suspect]
     Active Substance: RITUXIMAB
     Route: 042
  841. RITUXIMAB [Suspect]
     Active Substance: RITUXIMAB
     Route: 050
  842. VITAMIN D3 [Suspect]
     Active Substance: CHOLECALCIFEROL
     Indication: Product used for unknown indication
     Route: 065
  843. ACTEMRA [Suspect]
     Active Substance: TOCILIZUMAB
     Indication: Rheumatoid arthritis
     Route: 042
  844. ACTEMRA [Suspect]
     Active Substance: TOCILIZUMAB
     Route: 042
  845. ACTEMRA [Suspect]
     Active Substance: TOCILIZUMAB
     Route: 058
  846. ACTEMRA [Suspect]
     Active Substance: TOCILIZUMAB
     Route: 058
  847. ACTEMRA [Suspect]
     Active Substance: TOCILIZUMAB
     Route: 065
  848. ACTEMRA [Suspect]
     Active Substance: TOCILIZUMAB
     Route: 058
  849. ACTEMRA [Suspect]
     Active Substance: TOCILIZUMAB
     Route: 042
  850. ACTEMRA [Suspect]
     Active Substance: TOCILIZUMAB
     Route: 065
  851. ACTEMRA [Suspect]
     Active Substance: TOCILIZUMAB
     Route: 065
  852. ACTEMRA [Suspect]
     Active Substance: TOCILIZUMAB
     Route: 058
  853. ACTEMRA [Suspect]
     Active Substance: TOCILIZUMAB
     Route: 050
  854. ACTEMRA [Suspect]
     Active Substance: TOCILIZUMAB
     Route: 050
  855. ACTEMRA [Suspect]
     Active Substance: TOCILIZUMAB
     Route: 058
  856. ACTEMRA [Suspect]
     Active Substance: TOCILIZUMAB
     Route: 065
  857. ACTEMRA [Suspect]
     Active Substance: TOCILIZUMAB
     Route: 042
  858. ACTEMRA [Suspect]
     Active Substance: TOCILIZUMAB
     Route: 065
  859. ACTEMRA [Suspect]
     Active Substance: TOCILIZUMAB
     Route: 058
  860. ACTEMRA [Suspect]
     Active Substance: TOCILIZUMAB
     Route: 050
  861. ACTEMRA [Suspect]
     Active Substance: TOCILIZUMAB
     Route: 065
  862. ACTEMRA [Suspect]
     Active Substance: TOCILIZUMAB
     Route: 050
  863. ACTEMRA [Suspect]
     Active Substance: TOCILIZUMAB
     Route: 065
  864. ACTEMRA [Suspect]
     Active Substance: TOCILIZUMAB
     Route: 042
  865. ACTEMRA [Suspect]
     Active Substance: TOCILIZUMAB
     Route: 042
  866. ACTEMRA [Suspect]
     Active Substance: TOCILIZUMAB
     Route: 042
  867. ACTEMRA [Suspect]
     Active Substance: TOCILIZUMAB
     Route: 042
  868. ACTEMRA [Suspect]
     Active Substance: TOCILIZUMAB
     Route: 065
  869. ACTEMRA [Suspect]
     Active Substance: TOCILIZUMAB
     Route: 058
  870. ACTEMRA [Suspect]
     Active Substance: TOCILIZUMAB
     Route: 050
  871. ACTEMRA [Suspect]
     Active Substance: TOCILIZUMAB
     Route: 042
  872. ACTEMRA [Suspect]
     Active Substance: TOCILIZUMAB
     Route: 058
  873. AZATHIOPRINE [Suspect]
     Active Substance: AZATHIOPRINE
     Indication: Product used for unknown indication
     Route: 065
  874. CELEBREX [Suspect]
     Active Substance: CELECOXIB
     Indication: Product used for unknown indication
     Route: 048
  875. CELEBREX [Suspect]
     Active Substance: CELECOXIB
     Route: 048
  876. CELEBREX [Suspect]
     Active Substance: CELECOXIB
     Route: 048
  877. CELEBREX [Suspect]
     Active Substance: CELECOXIB
     Route: 048
  878. CHLORHEXIDINE GLUCONATE\ISOPROPYL ALCOHOL [Suspect]
     Active Substance: CHLORHEXIDINE GLUCONATE\ISOPROPYL ALCOHOL
     Indication: Product used for unknown indication
     Route: 050
  879. CHLORHEXIDINE GLUCONATE\ISOPROPYL ALCOHOL [Suspect]
     Active Substance: CHLORHEXIDINE GLUCONATE\ISOPROPYL ALCOHOL
     Route: 002
  880. CORTISONE [Suspect]
     Active Substance: CORTISONE
     Indication: Rheumatoid arthritis
     Route: 048
  881. CORTISONE [Suspect]
     Active Substance: CORTISONE
     Indication: Product used for unknown indication
     Route: 065
  882. DESOXIMETASONE [Suspect]
     Active Substance: DESOXIMETASONE
     Indication: Rheumatoid arthritis
     Route: 065
  883. DESOXIMETASONE [Suspect]
     Active Substance: DESOXIMETASONE
     Route: 065
  884. DESOXIMETASONE [Suspect]
     Active Substance: DESOXIMETASONE
     Route: 050
  885. DESOXIMETASONE [Suspect]
     Active Substance: DESOXIMETASONE
     Route: 050
  886. DESOXIMETASONE [Suspect]
     Active Substance: DESOXIMETASONE
     Route: 058
  887. DESOXIMETASONE [Suspect]
     Active Substance: DESOXIMETASONE
     Route: 048
  888. DICLOFENAC SODIUM [Suspect]
     Active Substance: DICLOFENAC SODIUM
     Indication: Product used for unknown indication
     Route: 065
  889. DICLOFENAC SODIUM [Suspect]
     Active Substance: DICLOFENAC SODIUM
     Route: 065
  890. ERENUMAB-AOOE [Suspect]
     Active Substance: ERENUMAB-AOOE
     Indication: Migraine
     Route: 065
  891. ERENUMAB-AOOE [Suspect]
     Active Substance: ERENUMAB-AOOE
     Route: 065
  892. ERGOCALCIFEROL [Suspect]
     Active Substance: ERGOCALCIFEROL
     Indication: Rheumatoid arthritis
     Route: 065
  893. GOLD [Suspect]
     Active Substance: GOLD
     Indication: Product used for unknown indication
     Route: 065
  894. GOLD [Suspect]
     Active Substance: GOLD
     Route: 065
  895. HAIR KERATIN AMINO ACIDS GOLD COMPLEX [Suspect]
     Active Substance: HAIR KERATIN AMINO ACIDS GOLD COMPLEX
     Indication: Product used for unknown indication
     Route: 065
  896. GOLIMUMAB [Suspect]
     Active Substance: GOLIMUMAB
     Indication: Rheumatoid arthritis
     Route: 065
  897. HUMIRA [Suspect]
     Active Substance: ADALIMUMAB
     Indication: Rheumatoid arthritis
     Route: 058
  898. INFLIXIMAB [Suspect]
     Active Substance: INFLIXIMAB
     Indication: Rheumatoid arthritis
     Route: 050
  899. INFLIXIMAB [Suspect]
     Active Substance: INFLIXIMAB
     Indication: Product used for unknown indication
     Route: 050
  900. INFLIXIMAB [Suspect]
     Active Substance: INFLIXIMAB
     Route: 042
  901. KEVZARA [Suspect]
     Active Substance: SARILUMAB
     Indication: Rheumatoid arthritis
     Route: 065
  902. KEVZARA [Suspect]
     Active Substance: SARILUMAB
     Route: 065
  903. XELJANZ [Suspect]
     Active Substance: TOFACITINIB CITRATE
     Indication: Rheumatoid arthritis
     Route: 065
  904. XELJANZ [Suspect]
     Active Substance: TOFACITINIB CITRATE
     Route: 048
  905. XELJANZ [Suspect]
     Active Substance: TOFACITINIB CITRATE
     Route: 048
  906. XELJANZ [Suspect]
     Active Substance: TOFACITINIB CITRATE
     Dosage: 10 MG, QD
     Route: 050
  907. XELJANZ [Suspect]
     Active Substance: TOFACITINIB CITRATE
     Route: 048
  908. XELJANZ [Suspect]
     Active Substance: TOFACITINIB CITRATE
     Dosage: 10 MG, QD
     Route: 050
  909. XELJANZ [Suspect]
     Active Substance: TOFACITINIB CITRATE
     Dosage: 10 MG, QD
     Route: 050
  910. XELJANZ [Suspect]
     Active Substance: TOFACITINIB CITRATE
     Dosage: 10 MG, QD
     Route: 050
  911. XELJANZ [Suspect]
     Active Substance: TOFACITINIB CITRATE
     Route: 048
  912. XELJANZ [Suspect]
     Active Substance: TOFACITINIB CITRATE
     Route: 048
  913. XELJANZ [Suspect]
     Active Substance: TOFACITINIB CITRATE
     Dosage: 10 MG, QD
     Route: 050
  914. XELJANZ [Suspect]
     Active Substance: TOFACITINIB CITRATE
     Dosage: 10 MG, QD
     Route: 050
  915. XELJANZ [Suspect]
     Active Substance: TOFACITINIB CITRATE
     Dosage: 240 MG, QD
     Route: 065
  916. XELJANZ [Suspect]
     Active Substance: TOFACITINIB CITRATE
     Dosage: 10 MG, QD
     Route: 048
  917. TRAMADOL HYDROCHLORIDE [Suspect]
     Active Substance: TRAMADOL HYDROCHLORIDE
     Indication: Product used for unknown indication
     Dosage: 20 MG, QD
     Route: 065
  918. TRAMADOL HYDROCHLORIDE [Suspect]
     Active Substance: TRAMADOL HYDROCHLORIDE
     Dosage: 20 MG, QD
     Route: 065
  919. STELARA [Suspect]
     Active Substance: USTEKINUMAB
     Indication: Rheumatoid arthritis
     Route: 058
  920. STELARA [Suspect]
     Active Substance: USTEKINUMAB
     Route: 050
  921. GOLD SODIUM THIOMALATE [Suspect]
     Active Substance: GOLD SODIUM THIOMALATE
     Indication: Product used for unknown indication
     Route: 030
  922. GOLD SODIUM THIOMALATE [Suspect]
     Active Substance: GOLD SODIUM THIOMALATE
     Route: 050
  923. GOLD SODIUM THIOMALATE [Suspect]
     Active Substance: GOLD SODIUM THIOMALATE
     Route: 048
  924. GOLD SODIUM THIOMALATE [Suspect]
     Active Substance: GOLD SODIUM THIOMALATE
     Route: 050
  925. GOLD SODIUM THIOMALATE [Suspect]
     Active Substance: GOLD SODIUM THIOMALATE
     Route: 050
  926. SIRUKUMAB [Suspect]
     Active Substance: SIRUKUMAB
     Indication: Product used for unknown indication
     Route: 065
  927. SIRUKUMAB [Suspect]
     Active Substance: SIRUKUMAB
     Route: 065
  928. SIMPONI [Suspect]
     Active Substance: GOLIMUMAB
     Indication: Rheumatoid arthritis
     Route: 058
  929. SULFASALAZINE [Suspect]
     Active Substance: SULFASALAZINE
     Indication: Rheumatoid arthritis
     Route: 058
  930. SULFASALAZINE [Suspect]
     Active Substance: SULFASALAZINE
     Route: 065
  931. SULFASALAZINE [Suspect]
     Active Substance: SULFASALAZINE
     Route: 065
  932. SULFASALAZINE [Suspect]
     Active Substance: SULFASALAZINE
     Route: 050
  933. SULFASALAZINE [Suspect]
     Active Substance: SULFASALAZINE
     Route: 050
  934. RIBOFLAVIN 5^-PHOSPHATE [Suspect]
     Active Substance: RIBOFLAVIN 5^-PHOSPHATE
     Indication: Product used for unknown indication
     Route: 065
  935. REMICADE [Suspect]
     Active Substance: INFLIXIMAB
     Indication: Rheumatoid arthritis
     Route: 050
  936. REMICADE [Suspect]
     Active Substance: INFLIXIMAB
     Route: 042
  937. REMICADE [Suspect]
     Active Substance: INFLIXIMAB
     Route: 050
  938. REMICADE [Suspect]
     Active Substance: INFLIXIMAB
     Route: 042
  939. REMICADE [Suspect]
     Active Substance: INFLIXIMAB
     Route: 042
  940. REMICADE [Suspect]
     Active Substance: INFLIXIMAB
     Route: 042
  941. REMICADE [Suspect]
     Active Substance: INFLIXIMAB
     Route: 042
  942. REMICADE [Suspect]
     Active Substance: INFLIXIMAB
     Route: 050
  943. REMICADE [Suspect]
     Active Substance: INFLIXIMAB
     Route: 050
  944. REMICADE [Suspect]
     Active Substance: INFLIXIMAB
     Route: 050
  945. REMICADE [Suspect]
     Active Substance: INFLIXIMAB
     Route: 043
  946. REMICADE [Suspect]
     Active Substance: INFLIXIMAB
     Route: 058
  947. REMICADE [Suspect]
     Active Substance: INFLIXIMAB
     Route: 058
  948. REMICADE [Suspect]
     Active Substance: INFLIXIMAB
     Route: 042
  949. REMICADE [Suspect]
     Active Substance: INFLIXIMAB
     Route: 050
  950. REMICADE [Suspect]
     Active Substance: INFLIXIMAB
     Route: 040
  951. REMICADE [Suspect]
     Active Substance: INFLIXIMAB
     Route: 042
  952. REMICADE [Suspect]
     Active Substance: INFLIXIMAB
     Route: 040
  953. REMICADE [Suspect]
     Active Substance: INFLIXIMAB
     Route: 042
  954. REMICADE [Suspect]
     Active Substance: INFLIXIMAB
     Route: 043
  955. REMICADE [Suspect]
     Active Substance: INFLIXIMAB
     Route: 040
  956. REMICADE [Suspect]
     Active Substance: INFLIXIMAB
     Route: 058
  957. REMICADE [Suspect]
     Active Substance: INFLIXIMAB
     Dosage: 500 MG, QD  (POWDER FOR SOLUTION INTRAVENOUS)
     Route: 065
  958. REMICADE [Suspect]
     Active Substance: INFLIXIMAB
     Dosage: 500 MG, QD (POWDER FOR SOLUTION INTRAVENOUS)
     Route: 050
  959. REMICADE [Suspect]
     Active Substance: INFLIXIMAB
     Dosage: 500 MG, QD (POWDER FOR SOLUTION INTRAVENOUS)
     Route: 065
  960. REMICADE [Suspect]
     Active Substance: INFLIXIMAB
     Route: 050
  961. REMICADE [Suspect]
     Active Substance: INFLIXIMAB
     Route: 050
  962. REMICADE [Suspect]
     Active Substance: INFLIXIMAB
     Route: 042
  963. REMICADE [Suspect]
     Active Substance: INFLIXIMAB
     Route: 040
  964. REMICADE [Suspect]
     Active Substance: INFLIXIMAB
     Dosage: 2000 MG, QD (POWDER FOR SOLUTION INTRAVENOUS)
     Route: 040
  965. REMICADE [Suspect]
     Active Substance: INFLIXIMAB
     Dosage: 2000 MG, QD (POWDER FOR SOLUTION INTRAVENOUS)
     Route: 050
  966. REMICADE [Suspect]
     Active Substance: INFLIXIMAB
     Route: 042
  967. REMICADE [Suspect]
     Active Substance: INFLIXIMAB
     Route: 042
  968. REMICADE [Suspect]
     Active Substance: INFLIXIMAB
     Dosage: 2000 MG, QD (POWDER FOR SOLUTION INTRAVENOUS)
     Route: 040
  969. REMICADE [Suspect]
     Active Substance: INFLIXIMAB
     Dosage: 2000 MG, QD (POWDER FOR SOLUTION INTRAVENOUS)
     Route: 050
  970. REMICADE [Suspect]
     Active Substance: INFLIXIMAB
     Route: 050
  971. REMICADE [Suspect]
     Active Substance: INFLIXIMAB
     Route: 050
  972. CETIRIZINE HYDROCHLORIDE [Suspect]
     Active Substance: CETIRIZINE HYDROCHLORIDE
     Indication: Rheumatoid arthritis
     Route: 048
  973. CETIRIZINE HYDROCHLORIDE [Suspect]
     Active Substance: CETIRIZINE HYDROCHLORIDE
     Route: 048
  974. CETIRIZINE HYDROCHLORIDE [Suspect]
     Active Substance: CETIRIZINE HYDROCHLORIDE
     Route: 048
  975. CETIRIZINE HYDROCHLORIDE [Suspect]
     Active Substance: CETIRIZINE HYDROCHLORIDE
     Route: 048
  976. CETIRIZINE HYDROCHLORIDE [Suspect]
     Active Substance: CETIRIZINE HYDROCHLORIDE
     Route: 048
  977. CETIRIZINE HYDROCHLORIDE [Suspect]
     Active Substance: CETIRIZINE HYDROCHLORIDE
     Route: 048
  978. CETIRIZINE HYDROCHLORIDE [Suspect]
     Active Substance: CETIRIZINE HYDROCHLORIDE
     Route: 048
  979. CETIRIZINE HYDROCHLORIDE [Suspect]
     Active Substance: CETIRIZINE HYDROCHLORIDE
     Route: 048
  980. CETIRIZINE HYDROCHLORIDE [Suspect]
     Active Substance: CETIRIZINE HYDROCHLORIDE
     Route: 048
  981. PREDNISONE [Suspect]
     Active Substance: PREDNISONE
     Indication: Rheumatoid arthritis
     Dosage: 50 MG, QD
     Route: 048
  982. PREDNISONE [Suspect]
     Active Substance: PREDNISONE
     Dosage: 20 MG, QD
     Route: 048
  983. PREDNISONE [Suspect]
     Active Substance: PREDNISONE
     Route: 065
  984. PREDNISONE [Suspect]
     Active Substance: PREDNISONE
     Route: 065
  985. ORENCIA [Suspect]
     Active Substance: ABATACEPT
     Indication: Rheumatoid arthritis
     Route: 042
  986. ORENCIA [Suspect]
     Active Substance: ABATACEPT
     Indication: Product used for unknown indication
     Route: 065
  987. ORENCIA [Suspect]
     Active Substance: ABATACEPT
     Route: 042
  988. ORENCIA [Suspect]
     Active Substance: ABATACEPT
     Dosage: 125 MG, QWEEK
     Route: 058
  989. ORENCIA [Suspect]
     Active Substance: ABATACEPT
     Dosage: 125 MG, QWEEK
     Route: 058
  990. ORENCIA [Suspect]
     Active Substance: ABATACEPT
     Route: 065
  991. ORENCIA [Suspect]
     Active Substance: ABATACEPT
     Route: 065
  992. ORENCIA [Suspect]
     Active Substance: ABATACEPT
     Route: 065
  993. ORENCIA [Suspect]
     Active Substance: ABATACEPT
     Route: 065
  994. ORENCIA [Suspect]
     Active Substance: ABATACEPT
     Route: 040
  995. ORENCIA [Suspect]
     Active Substance: ABATACEPT
     Route: 040
  996. NAPROXEN [Suspect]
     Active Substance: NAPROXEN
     Indication: Product used for unknown indication
     Route: 065
  997. MINOCYCLINE [Suspect]
     Active Substance: MINOCYCLINE HYDROCHLORIDE
     Indication: Rheumatoid arthritis
     Route: 065
  998. MINOCYCLINE [Suspect]
     Active Substance: MINOCYCLINE HYDROCHLORIDE
     Route: 065
  999. METHOTREXATE [Suspect]
     Active Substance: METHOTREXATE
     Indication: Rheumatoid arthritis
     Route: 050
  1000. METHOTREXATE [Suspect]
     Active Substance: METHOTREXATE
     Dosage: 20 MG, QWEEK
     Route: 058
  1001. METHOTREXATE [Suspect]
     Active Substance: METHOTREXATE
     Dosage: 15 MG, QWEEK
     Route: 058
  1002. METHOTREXATE [Suspect]
     Active Substance: METHOTREXATE
     Dosage: 25 MG, QWEEK
     Route: 048
  1003. METHOTREXATE [Suspect]
     Active Substance: METHOTREXATE
     Route: 048
  1004. METHOTREXATE [Suspect]
     Active Substance: METHOTREXATE
     Dosage: 20 MG, QD
     Route: 058
  1005. METHOTREXATE [Suspect]
     Active Substance: METHOTREXATE
     Dosage: 20 MG, QD
     Route: 048
  1006. METHOTREXATE [Suspect]
     Active Substance: METHOTREXATE
     Dosage: 25 MG, QWEEK
     Route: 058
  1007. METHOTREXATE [Suspect]
     Active Substance: METHOTREXATE
     Route: 048
  1008. METHOTREXATE [Suspect]
     Active Substance: METHOTREXATE
     Route: 050
  1009. METHOTREXATE [Suspect]
     Active Substance: METHOTREXATE
     Dosage: 15 MG, QWEEK
     Route: 050
  1010. METHOTREXATE [Suspect]
     Active Substance: METHOTREXATE
     Dosage: 20 MG, QWEEK
     Route: 050
  1011. CLIOQUINOL\FLUMETHASONE [Suspect]
     Active Substance: CLIOQUINOL\FLUMETHASONE
     Indication: Product used for unknown indication
     Route: 050
  1012. CLIOQUINOL\FLUMETHASONE [Suspect]
     Active Substance: CLIOQUINOL\FLUMETHASONE
     Route: 058
  1013. DESOGESTREL AND ETHINYL ESTRADIOL [Concomitant]
     Active Substance: DESOGESTREL\ETHINYL ESTRADIOL
     Indication: Product used for unknown indication
     Route: 065
  1014. NAPROXEN [Concomitant]
     Active Substance: NAPROXEN
     Indication: Product used for unknown indication
     Dosage: 500 MILLIGRAM, QD
     Route: 065
  1015. NAPROXEN [Concomitant]
     Active Substance: NAPROXEN
     Route: 065
  1016. NAPROXEN [Concomitant]
     Active Substance: NAPROXEN
     Route: 065
  1017. DESOGESTREL AND ETHINYL ESTRADIOL [Concomitant]
     Active Substance: DESOGESTREL\ETHINYL ESTRADIOL
     Indication: Product used for unknown indication
     Route: 065
  1018. DESOGESTREL AND ETHINYL ESTRADIOL [Concomitant]
     Active Substance: DESOGESTREL\ETHINYL ESTRADIOL
     Route: 065
  1019. HYDROXYCHLOROQUINE [Concomitant]
     Active Substance: HYDROXYCHLOROQUINE
     Indication: Product used for unknown indication
     Route: 065
  1020. HYDROXYCHLOROQUINE [Concomitant]
     Active Substance: HYDROXYCHLOROQUINE
     Route: 065

REACTIONS (122)
  - Type 2 diabetes mellitus [Fatal]
  - Infusion related reaction [Fatal]
  - Nausea [Fatal]
  - Pain [Fatal]
  - Pemphigus [Fatal]
  - Pericarditis [Fatal]
  - Psoriatic arthropathy [Fatal]
  - Rash [Fatal]
  - Swelling [Fatal]
  - Systemic lupus erythematosus [Fatal]
  - Musculoskeletal stiffness [Fatal]
  - Wound [Fatal]
  - Finger deformity [Fatal]
  - Confusional state [Fatal]
  - Decreased appetite [Fatal]
  - Drug hypersensitivity [Fatal]
  - Dyspnoea [Fatal]
  - Gastrointestinal disorder [Fatal]
  - Gastrooesophageal reflux disease [Fatal]
  - Muscular weakness [Fatal]
  - Osteoarthritis [Fatal]
  - Paraesthesia [Fatal]
  - Peripheral swelling [Fatal]
  - Nail disorder [Fatal]
  - Headache [Fatal]
  - Hypoaesthesia [Fatal]
  - Peripheral venous disease [Fatal]
  - Pain in extremity [Fatal]
  - Hepatitis [Fatal]
  - Malaise [Fatal]
  - Sleep disorder [Fatal]
  - Insomnia [Fatal]
  - Stomatitis [Fatal]
  - Taste disorder [Fatal]
  - Urticaria [Fatal]
  - Liver function test increased [Fatal]
  - Injury [Fatal]
  - Fall [Fatal]
  - Weight increased [Fatal]
  - Wheezing [Fatal]
  - Back injury [Fatal]
  - Abdominal distension [Fatal]
  - Coeliac disease [Fatal]
  - Dyspepsia [Fatal]
  - Neck pain [Fatal]
  - Condition aggravated [Fatal]
  - Injection site reaction [Fatal]
  - Onychomadesis [Fatal]
  - Abdominal discomfort [Fatal]
  - Abdominal pain upper [Fatal]
  - Alopecia [Fatal]
  - Asthenia [Fatal]
  - Blepharospasm [Fatal]
  - Blister [Fatal]
  - Blood cholesterol increased [Fatal]
  - Depression [Fatal]
  - Diarrhoea [Fatal]
  - Dizziness [Fatal]
  - Drug-induced liver injury [Fatal]
  - Dry mouth [Fatal]
  - Duodenal ulcer perforation [Fatal]
  - Epilepsy [Fatal]
  - Fatigue [Fatal]
  - Fibromyalgia [Fatal]
  - General physical health deterioration [Fatal]
  - Glossodynia [Fatal]
  - Hand deformity [Fatal]
  - Hepatic enzyme increased [Fatal]
  - Hypercholesterolaemia [Fatal]
  - Hypersensitivity [Fatal]
  - Hypertension [Fatal]
  - Impaired healing [Fatal]
  - Inflammation [Fatal]
  - Lip dry [Fatal]
  - Liver injury [Fatal]
  - Lung disorder [Fatal]
  - Memory impairment [Fatal]
  - Migraine [Fatal]
  - Muscle injury [Fatal]
  - Muscle spasms [Fatal]
  - Night sweats [Fatal]
  - Obesity [Fatal]
  - Live birth [Fatal]
  - Normal newborn [Fatal]
  - Irritable bowel syndrome [Fatal]
  - Rheumatoid arthritis [Fatal]
  - Gait inability [Fatal]
  - Rheumatic fever [Fatal]
  - Synovitis [Fatal]
  - Mobility decreased [Fatal]
  - Grip strength decreased [Fatal]
  - Anti-cyclic citrullinated peptide antibody positive [Fatal]
  - Bursitis [Fatal]
  - C-reactive protein increased [Fatal]
  - C-reactive protein abnormal [Fatal]
  - Arthralgia [Fatal]
  - Facet joint syndrome [Fatal]
  - Arthropathy [Fatal]
  - Joint swelling [Fatal]
  - Joint range of motion decreased [Fatal]
  - Ill-defined disorder [Fatal]
  - Adverse reaction [Fatal]
  - Pneumonia [Fatal]
  - Wound infection [Fatal]
  - Onychomycosis [Fatal]
  - Folliculitis [Fatal]
  - Helicobacter infection [Fatal]
  - Breast cancer stage III [Fatal]
  - Lower respiratory tract infection [Fatal]
  - Nasopharyngitis [Fatal]
  - Maternal exposure during pregnancy [Fatal]
  - Product use in unapproved indication [Fatal]
  - Product use issue [Fatal]
  - Product label confusion [Fatal]
  - Contraindicated product administered [Fatal]
  - Therapeutic product effect decreased [Fatal]
  - Therapeutic product effect incomplete [Fatal]
  - Drug ineffective [Fatal]
  - Treatment failure [Fatal]
  - Intentional product use issue [Fatal]
  - Off label use [Fatal]
  - Product quality issue [Fatal]
